FAERS Safety Report 23915590 (Version 12)
Quarter: 2025Q4

REPORT INFORMATION
  Report Type: Spontaneous
  Country: CA (occurrence: CA)
  Receive Date: 20240529
  Receipt Date: 20251201
  Transmission Date: 20260117
  Serious: Yes (Death, Life-Threatening, Hospitalization, Disabling, Congenital Anomaly, Other)
  Sender: MYLAN
  Company Number: CA-MYLANLABS-2024M1047036

PATIENT
  Age: 80 Year
  Sex: Male
  Weight: 69 kg

DRUGS (656)
  1. NITROGLYCERIN [Suspect]
     Active Substance: NITROGLYCERIN
     Indication: Product used for unknown indication
     Dosage: UNK
  2. GABAPENTIN [Suspect]
     Active Substance: GABAPENTIN
     Indication: Neuralgia
     Dosage: 100 MILLIGRAM, QD
  3. GABAPENTIN [Suspect]
     Active Substance: GABAPENTIN
     Indication: Bacterial infection
     Dosage: UNK
  4. GABAPENTIN [Suspect]
     Active Substance: GABAPENTIN
     Dosage: 100 MILLIGRAM, QD
  5. GABAPENTIN [Suspect]
     Active Substance: GABAPENTIN
     Dosage: 100 MILLIGRAM, QD
  6. GABAPENTIN [Suspect]
     Active Substance: GABAPENTIN
     Dosage: 100 MILLIGRAM, QD
  7. GABAPENTIN [Suspect]
     Active Substance: GABAPENTIN
     Dosage: UNK UNK, QD (1 EVERY 1 DAY)
  8. GABAPENTIN [Suspect]
     Active Substance: GABAPENTIN
     Dosage: UNK
  9. GABAPENTIN [Suspect]
     Active Substance: GABAPENTIN
     Dosage: 100 MILLIGRAM, QD (AT BED TIME, EVERY 2H)
     Dates: start: 20200527
  10. GABAPENTIN [Suspect]
     Active Substance: GABAPENTIN
     Dosage: 100 MILLIGRAM
  11. GABAPENTIN [Suspect]
     Active Substance: GABAPENTIN
     Dosage: 100 MILIGRAM, QD
  12. GABAPENTIN [Suspect]
     Active Substance: GABAPENTIN
     Dosage: 10 MILIGRAM, QD
  13. GABAPENTIN [Suspect]
     Active Substance: GABAPENTIN
     Dosage: 100 MILLIGRAM (1 EVERY 0.25 DAY)
  14. GABAPENTIN [Suspect]
     Active Substance: GABAPENTIN
     Dosage: 100 MILLIGRAM (1 EVERY 0.25 DAY)
  15. FLUTICASONE PROPIONATE\SALMETEROL XINAFOATE [Suspect]
     Active Substance: FLUTICASONE PROPIONATE\SALMETEROL XINAFOATE
     Indication: Product used for unknown indication
     Dosage: UNK
  16. AMLODIPINE [Suspect]
     Active Substance: AMLODIPINE BESYLATE
     Indication: Ventricular fibrillation
     Dosage: 15 MILLIGRAM, QD
  17. AMLODIPINE [Suspect]
     Active Substance: AMLODIPINE BESYLATE
     Indication: Drug therapy
     Dosage: UNK, QD (1 EVERY 1 DAY)
  18. AMLODIPINE [Suspect]
     Active Substance: AMLODIPINE BESYLATE
     Dosage: UNK
  19. AMLODIPINE [Suspect]
     Active Substance: AMLODIPINE BESYLATE
     Dosage: 150 MILLIGRAM, QD (1 EVERY 1 DAY)
  20. CALCIUM CARBONATE [Suspect]
     Active Substance: CALCIUM CARBONATE
     Indication: Vitamin supplementation
     Dosage: UNK
  21. ACETAMINOPHEN [Suspect]
     Active Substance: ACETAMINOPHEN
     Indication: Analgesic therapy
     Dosage: 650 MILLIGRAM, QD
  22. ACETAMINOPHEN [Suspect]
     Active Substance: ACETAMINOPHEN
     Dosage: 650 MILLIGRAM, QD
  23. ACETAMINOPHEN [Suspect]
     Active Substance: ACETAMINOPHEN
     Dosage: 650 MILLIGRAM, QD
  24. ACETAMINOPHEN [Suspect]
     Active Substance: ACETAMINOPHEN
     Dosage: 650 MILLIGRAM, QD
  25. ACETAMINOPHEN [Suspect]
     Active Substance: ACETAMINOPHEN
     Dosage: 5 MILLIGRAM, QD
  26. ACETAMINOPHEN [Suspect]
     Active Substance: ACETAMINOPHEN
     Dosage: 650 MILLIGRAM, QD
  27. CEFTRIAXONE [Suspect]
     Active Substance: CEFTRIAXONE
     Indication: Bacterial infection
     Dosage: 2 GRAM, QD
  28. CEFTRIAXONE [Suspect]
     Active Substance: CEFTRIAXONE
     Indication: Sepsis
     Dosage: 2 GRAM
  29. CEFTRIAXONE [Suspect]
     Active Substance: CEFTRIAXONE
     Dosage: 2 GRAM, QD
  30. CEFTRIAXONE [Suspect]
     Active Substance: CEFTRIAXONE
     Dosage: 2 GRAM, QD
     Dates: start: 20200530
  31. DARBEPOETIN ALFA [Suspect]
     Active Substance: DARBEPOETIN ALFA
     Indication: Anaemia
     Dosage: 10 MICROGRAM (CYCLIC)
  32. DARBEPOETIN ALFA [Suspect]
     Active Substance: DARBEPOETIN ALFA
     Dosage: 0.71 MICROGRAM, QOD
  33. DARBEPOETIN ALFA [Suspect]
     Active Substance: DARBEPOETIN ALFA
     Dosage: 20 MILLIGRAM, QW
  34. DARBEPOETIN ALFA [Suspect]
     Active Substance: DARBEPOETIN ALFA
     Dosage: 1.42 MILLIGRAM, QW
  35. DARBEPOETIN ALFA [Suspect]
     Active Substance: DARBEPOETIN ALFA
     Dosage: 10 MILLIGRAM, BIWEEKLY
  36. DARBEPOETIN ALFA [Suspect]
     Active Substance: DARBEPOETIN ALFA
     Dosage: 0.2 MICROGRAM
  37. DARBEPOETIN ALFA [Suspect]
     Active Substance: DARBEPOETIN ALFA
     Dosage: 0.71 MICROGRAM
  38. BUDESONIDE [Suspect]
     Active Substance: BUDESONIDE
     Indication: Product used for unknown indication
     Dosage: UNK
  39. CORTISONE [Suspect]
     Active Substance: CORTISONE
     Indication: Product used for unknown indication
     Dosage: UNK
  40. EFINACONAZOLE [Suspect]
     Active Substance: EFINACONAZOLE
     Indication: Product used for unknown indication
     Dosage: UNK
  41. IPRATROPIUM [Suspect]
     Active Substance: IPRATROPIUM
     Indication: Sleep disorder therapy
     Dosage: UNK, QD (1 EVERY1 DAYS)
  42. IPRATROPIUM [Suspect]
     Active Substance: IPRATROPIUM
     Indication: Dyspnoea
     Dosage: UNK, QD (1 EVERY1 DAYS)
  43. IPRATROPIUM [Suspect]
     Active Substance: IPRATROPIUM
     Dosage: UNK, Q6H (1 EVERY 6 HOURS)
  44. IPRATROPIUM [Suspect]
     Active Substance: IPRATROPIUM
     Dosage: 4 DOSAGE FORM, QD (1 EVERY 1 DAYS)
  45. IPRATROPIUM [Suspect]
     Active Substance: IPRATROPIUM
     Dosage: 1 DOSAGE FORM
  46. IPRATROPIUM [Suspect]
     Active Substance: IPRATROPIUM
     Dosage: UNK
  47. IPRATROPIUM [Suspect]
     Active Substance: IPRATROPIUM
     Dosage: UNK
  48. IPRATROPIUM BROMIDE [Suspect]
     Active Substance: IPRATROPIUM BROMIDE
     Indication: Sleep disorder therapy
     Dosage: UNK
  49. IPRATROPIUM BROMIDE [Suspect]
     Active Substance: IPRATROPIUM BROMIDE
     Indication: Dyspnoea
     Dosage: 1 DOSAGE FORM
  50. IPRATROPIUM BROMIDE [Suspect]
     Active Substance: IPRATROPIUM BROMIDE
     Indication: Off label use
     Dosage: 4 DOSAGE FORM, QD (1 EVERY 1 DAYS)
  51. IPRATROPIUM BROMIDE [Suspect]
     Active Substance: IPRATROPIUM BROMIDE
     Indication: Intentional product misuse
     Dosage: UNK, QD (1 EVERY 1 DAYS)
  52. IPRATROPIUM BROMIDE [Suspect]
     Active Substance: IPRATROPIUM BROMIDE
     Indication: Dyspnoea
     Dosage: DOSE: 4 PUFFS, 4X A DAY, QID ROUTE OF ADMIN (FREE TEXT): RESPIRATORY (INHALATION)
  53. IPRATROPIUM BROMIDE [Suspect]
     Active Substance: IPRATROPIUM BROMIDE
     Dosage: 4 DOSAGE FORM, QD (1 DF Q8H) ROUTE OF ADMIN (FREE TEXT): RESPIRATORY (INHALATION)
  54. IPRATROPIUM BROMIDE [Suspect]
     Active Substance: IPRATROPIUM BROMIDE
     Dosage: UNK
  55. IPRATROPIUM BROMIDE [Suspect]
     Active Substance: IPRATROPIUM BROMIDE
     Dosage: UNK, QD ROUTE OF ADMIN (FREE TEXT): RESPIRATORY (INHALATION)
  56. IPRATROPIUM BROMIDE [Suspect]
     Active Substance: IPRATROPIUM BROMIDE
     Dosage: 4 UNK, QD ROUTE OF ADMIN (FREE TEXT): RESPIRATORY (INHALATION)
  57. IPRATROPIUM BROMIDE [Suspect]
     Active Substance: IPRATROPIUM BROMIDE
     Dosage: 1 DOSAGE FORM, QD
  58. IPRATROPIUM BROMIDE [Suspect]
     Active Substance: IPRATROPIUM BROMIDE
     Dosage: 1 DOSAGE FORM
  59. IPRATROPIUM BROMIDE [Suspect]
     Active Substance: IPRATROPIUM BROMIDE
     Dosage: UNK
  60. IPRATROPIUM BROMIDE [Suspect]
     Active Substance: IPRATROPIUM BROMIDE
     Dosage: UNK, QD (1 EVERY 1 DAYS)
  61. IPRATROPIUM BROMIDE [Suspect]
     Active Substance: IPRATROPIUM BROMIDE
     Dosage: 4 DOSAGE FORM, QD (1 EVERY 1 DAYS)
  62. MESALAMINE [Suspect]
     Active Substance: MESALAMINE
     Indication: Product used for unknown indication
     Dosage: UNK
  63. METRONIDAZOLE [Suspect]
     Active Substance: METRONIDAZOLE
     Indication: Bacterial infection
     Dosage: UNK
  64. METRONIDAZOLE [Suspect]
     Active Substance: METRONIDAZOLE
     Dosage: 500 MG, Q8H
  65. METRONIDAZOLE [Suspect]
     Active Substance: METRONIDAZOLE
     Dosage: 1500 MG, QD (500 MG TID)
  66. METRONIDAZOLE [Suspect]
     Active Substance: METRONIDAZOLE
     Dosage: 1500 MILLIGRAM, QD
  67. METRONIDAZOLE [Suspect]
     Active Substance: METRONIDAZOLE
     Dosage: 500 MG, Q8H (1500 MG QD)
  68. METRONIDAZOLE [Suspect]
     Active Substance: METRONIDAZOLE
     Indication: Bacterial infection
     Dosage: UNK
  69. METRONIDAZOLE [Suspect]
     Active Substance: METRONIDAZOLE
     Indication: Off label use
     Dosage: 500 MILLIGRAM, Q8H (1 EVERY 8 HOURS)
  70. METRONIDAZOLE [Suspect]
     Active Substance: METRONIDAZOLE
     Indication: Intentional product misuse
     Dosage: 500 MILLIGRAM, QD (1 EVERY 1 DAYS)
  71. METRONIDAZOLE [Suspect]
     Active Substance: METRONIDAZOLE
     Dosage: 1500 MILLIGRAM, QD (1 EVERY 1 DAY)
  72. METRONIDAZOLE [Suspect]
     Active Substance: METRONIDAZOLE
     Dosage: 1500 MILLIGRAM, TID (3 EVERY 1 DAY)
  73. METRONIDAZOLE [Suspect]
     Active Substance: METRONIDAZOLE
     Dosage: 500 MILLIGRAM, TID (3 EVERY 1 DAY)
  74. METRONIDAZOLE [Suspect]
     Active Substance: METRONIDAZOLE
     Dosage: 500 MILLIGRAM, TID (3 EVERY 1 DAY)_
  75. METRONIDAZOLE [Suspect]
     Active Substance: METRONIDAZOLE
     Dosage: 500 MILLIGRAM
  76. METRONIDAZOLE [Suspect]
     Active Substance: METRONIDAZOLE
     Dosage: UNK, Q3H
  77. METRONIDAZOLE [Suspect]
     Active Substance: METRONIDAZOLE
     Dosage: 1500 MICROGRAM, TID
  78. METRONIDAZOLE [Suspect]
     Active Substance: METRONIDAZOLE
     Dosage: 500 MICROGRAM, TID
  79. METRONIDAZOLE [Suspect]
     Active Substance: METRONIDAZOLE
     Dosage: 1500 MICROGRAM, QD
  80. METRONIDAZOLE [Suspect]
     Active Substance: METRONIDAZOLE
     Dosage: 500 MICROGRAM
  81. METRONIDAZOLE [Suspect]
     Active Substance: METRONIDAZOLE
     Dosage: 1500 MICROGRAM
  82. METRONIDAZOLE [Suspect]
     Active Substance: METRONIDAZOLE
     Dosage: UNK
  83. METRONIDAZOLE [Suspect]
     Active Substance: METRONIDAZOLE
     Dosage: 1 MILLIGRAM
  84. METRONIDAZOLE [Suspect]
     Active Substance: METRONIDAZOLE
     Dosage: 1500 MILLIGRAM, Q8H
  85. METRONIDAZOLE [Suspect]
     Active Substance: METRONIDAZOLE
     Dosage: UNK, Q8H
  86. METRONIDAZOLE [Suspect]
     Active Substance: METRONIDAZOLE
     Dosage: 500 MICROGRAM, Q8H (1 EVERY 8 HOURS)
  87. METRONIDAZOLE [Suspect]
     Active Substance: METRONIDAZOLE
     Dosage: 1500 MICROGRAM, QD (1 EVERY 1 DAYS)
  88. METRONIDAZOLE [Suspect]
     Active Substance: METRONIDAZOLE
     Dosage: 500 MICROGRAM, QD (1 EVERY 1 DAYS)
  89. METRONIDAZOLE [Suspect]
     Active Substance: METRONIDAZOLE
     Dosage: 500 MILLIGRAM, TID (3 EVERY 1 DAYS)
  90. METRONIDAZOLE [Suspect]
     Active Substance: METRONIDAZOLE
     Dosage: 1500 MILLIGRAM, TID (3 EVERY 1 DAYS)
  91. METRONIDAZOLE [Suspect]
     Active Substance: METRONIDAZOLE
     Dosage: UNK, TID (3 EVERY 1 DAYS)
  92. METRONIDAZOLE [Suspect]
     Active Substance: METRONIDAZOLE
     Dosage: UNK UNK, Q3H (1 EVERY 3 HOURS)
  93. PHYTONADIONE [Suspect]
     Active Substance: PHYTONADIONE
     Indication: Vitamin supplementation
     Dosage: UNK
  94. PHYTONADIONE [Suspect]
     Active Substance: PHYTONADIONE
     Indication: Off label use
     Dosage: 5 MILLIGRAM
  95. PHYTONADIONE [Suspect]
     Active Substance: PHYTONADIONE
     Dosage: 5 MILLIGRAM, QD (1 EVERY 1 DAY)
  96. PHYTONADIONE [Suspect]
     Active Substance: PHYTONADIONE
     Dosage: 5 MILLIGRAM, PRN
  97. PHYTONADIONE [Suspect]
     Active Substance: PHYTONADIONE
     Dosage: 5 MILLIGRAM, QD ( 1 EVERY 1 DAYS)
  98. PHYTONADIONE [Suspect]
     Active Substance: PHYTONADIONE
     Dosage: 5 MILLIGRAM
  99. PHYTONADIONE [Suspect]
     Active Substance: PHYTONADIONE
     Dosage: 5 MILLIGRAM, PRN
  100. PHYTONADIONE [Suspect]
     Active Substance: PHYTONADIONE
     Dosage: 5 MILLIGRAM, QD ( 1 EVERY 1 DAYS)
  101. RAMIPRIL [Suspect]
     Active Substance: RAMIPRIL
     Indication: Asthma
     Dosage: UNK
  102. RAMIPRIL [Suspect]
     Active Substance: RAMIPRIL
     Indication: Prophylaxis
     Dosage: UNK
  103. ALBUTEROL [Suspect]
     Active Substance: ALBUTEROL
     Indication: Chronic obstructive pulmonary disease
     Dosage: 4 DOSAGE FORM, QD (1 EVERY 1 DAYS)
  104. ALBUTEROL [Suspect]
     Active Substance: ALBUTEROL
     Indication: Prophylaxis
     Dosage: 1 DOSAGE FORM, Q6H (1 EVERY 6 HOURS)
  105. ALBUTEROL [Suspect]
     Active Substance: ALBUTEROL
     Indication: Asthma
     Dosage: UNK
  106. ALBUTEROL [Suspect]
     Active Substance: ALBUTEROL
     Indication: Off label use
     Dosage: UNK
  107. ALBUTEROL [Suspect]
     Active Substance: ALBUTEROL
     Indication: Intentional product misuse
     Dosage: 1 DOSAGE FORM, Q6H (1 EVERY 6 HOURS)
  108. ALBUTEROL [Suspect]
     Active Substance: ALBUTEROL
     Dosage: UNK
  109. ALBUTEROL [Suspect]
     Active Substance: ALBUTEROL
     Dosage: 4 DOSAGE FORM, QD (1 EVERY 1 DAYS)
  110. ALBUTEROL [Suspect]
     Active Substance: ALBUTEROL
     Dosage: 1 DOSAGE FORM, QID (4 EVERY 1 DAYS)
  111. DOBUTAMINE [Suspect]
     Active Substance: DOBUTAMINE HYDROCHLORIDE
     Indication: Cardiogenic shock
     Dosage: UNK
  112. DOBUTAMINE [Suspect]
     Active Substance: DOBUTAMINE HYDROCHLORIDE
     Dosage: UNK
  113. DOBUTAMINE [Suspect]
     Active Substance: DOBUTAMINE HYDROCHLORIDE
     Dosage: UNK
  114. DOBUTAMINE [Suspect]
     Active Substance: DOBUTAMINE HYDROCHLORIDE
     Dosage: UNK
  115. DOBUTAMINE [Suspect]
     Active Substance: DOBUTAMINE HYDROCHLORIDE
     Dosage: UNK
  116. DOBUTAMINE [Suspect]
     Active Substance: DOBUTAMINE HYDROCHLORIDE
     Dosage: UNK
  117. DOBUTAMINE [Suspect]
     Active Substance: DOBUTAMINE HYDROCHLORIDE
     Dosage: UNK
  118. DOBUTAMINE [Suspect]
     Active Substance: DOBUTAMINE HYDROCHLORIDE
     Dosage: UNK
  119. MAGNESIUM OXIDE [Suspect]
     Active Substance: MAGNESIUM OXIDE
     Indication: Constipation
     Dosage: 133 MILLILITER, PRN
  120. MAGNESIUM OXIDE [Suspect]
     Active Substance: MAGNESIUM OXIDE
     Dosage: 133 MILLILITER
  121. TOCOPHEROL [Suspect]
     Active Substance: TOCOPHEROL
     Indication: Nutritional supplementation
     Dosage: 12.5 GRAM
  122. TOCOPHEROL [Suspect]
     Active Substance: TOCOPHEROL
     Dosage: UNK
  123. ACETAMINOPHEN [Suspect]
     Active Substance: ACETAMINOPHEN
     Indication: Analgesic therapy
     Dosage: 650 MILLIGRAM, QD (1 EVERY 1 DAY)
  124. ACETAMINOPHEN [Suspect]
     Active Substance: ACETAMINOPHEN
     Indication: Off label use
     Dosage: 650 MILLIGRAM
  125. ACETAMINOPHEN [Suspect]
     Active Substance: ACETAMINOPHEN
     Indication: Intentional product misuse
     Dosage: UNK
  126. ACETAMINOPHEN [Suspect]
     Active Substance: ACETAMINOPHEN
     Dosage: 650 MILLIGRAM, QD (1 EVERY 1 DAY)
  127. ACETAMINOPHEN [Suspect]
     Active Substance: ACETAMINOPHEN
     Dosage: 0.5 MILLILITER, QD ( 1 EVERY 1 DAY)
  128. ACETAMINOPHEN [Suspect]
     Active Substance: ACETAMINOPHEN
     Dosage: 5 MILLIGRAM, QD (1 EVERY 1 DAY)
  129. ACETAMINOPHEN [Suspect]
     Active Substance: ACETAMINOPHEN
     Dosage: 650 MILLIGRAM (1 EVERY 0.25 DAYS)
  130. ACETAMINOPHEN [Suspect]
     Active Substance: ACETAMINOPHEN
     Dosage: 5 MILLIGRAM, QD (1 EVERY 1 DAY)
  131. ALLANTOIN [Suspect]
     Active Substance: ALLANTOIN
     Indication: Product used for unknown indication
     Dosage: 17 GRAM, QD
  132. ALLANTOIN [Suspect]
     Active Substance: ALLANTOIN
     Dosage: 17 GRAM (1 EVERY 0. 25 DAYS)
  133. ALLOPURINOL [Suspect]
     Active Substance: ALLOPURINOL
     Indication: Blood uric acid increased
     Dosage: 100 MILLIGRAM, QD
  134. ALLOPURINOL [Suspect]
     Active Substance: ALLOPURINOL
     Dosage: 1 DOSAGE FORM, QD (1 DOSAGE FORM, QD,ORAL USE)
  135. ALLOPURINOL [Suspect]
     Active Substance: ALLOPURINOL
     Dosage: 100 MILLIGRAM, QD (ORAL USE)
  136. ALLOPURINOL [Suspect]
     Active Substance: ALLOPURINOL
     Dosage: 1 DOSAGE FORM, QD (1 DOSAGE FORM, QD),ORAL USE)
  137. ALLOPURINOL [Suspect]
     Active Substance: ALLOPURINOL
     Dosage: 100 MILLIGRAM
  138. ALLOPURINOL [Suspect]
     Active Substance: ALLOPURINOL
     Dosage: 1 DOSAGE FORM, QD (ORAL USE)
  139. ALLOPURINOL [Suspect]
     Active Substance: ALLOPURINOL
     Dosage: 1 DOSAGE FORM
  140. ALLOPURINOL [Suspect]
     Active Substance: ALLOPURINOL
     Dosage: 100 MICROGRAM, QD
  141. ALLOPURINOL [Suspect]
     Active Substance: ALLOPURINOL
     Dosage: UNK
  142. ALLOPURINOL [Suspect]
     Active Substance: ALLOPURINOL
     Dosage: 100 MILLIGRAM, QD (MORNING)
     Dates: start: 20200527
  143. ALLOPURINOL [Suspect]
     Active Substance: ALLOPURINOL
     Dosage: 1 DOSAGE FORM, QD
  144. ALLOPURINOL [Suspect]
     Active Substance: ALLOPURINOL
     Dosage: 1 DOSAGE FORM
  145. ALLOPURINOL [Suspect]
     Active Substance: ALLOPURINOL
     Dosage: 100 MILLIGRAM, QD (MORNING)
     Dates: start: 20200527
  146. ALLOPURINOL [Suspect]
     Active Substance: ALLOPURINOL
     Dosage: 1 DOSAGE FORM, QD
  147. ALLOPURINOL [Suspect]
     Active Substance: ALLOPURINOL
     Dosage: 100 MILLIGRAM
  148. ALLOPURINOL [Suspect]
     Active Substance: ALLOPURINOL
     Dosage: 1 DOSAGE FORM, QD
  149. ALLOPURINOL [Suspect]
     Active Substance: ALLOPURINOL
     Indication: Blood uric acid increased
     Dosage: 100 MILLIGRAM
  150. ALLOPURINOL [Suspect]
     Active Substance: ALLOPURINOL
     Dosage: 100 MILLIGRAM, QD (1 EVERY 1 DAYS)
  151. ALLOPURINOL [Suspect]
     Active Substance: ALLOPURINOL
     Dosage: 1 DOSAGE FORM, QD (1 EVERY 1 DAY)
  152. ALLOPURINOL [Suspect]
     Active Substance: ALLOPURINOL
     Dosage: UNK
  153. ALLOPURINOL [Suspect]
     Active Substance: ALLOPURINOL
     Dosage: 1 DOSAGE FORM (1 EVERY 0.25 DAYS)
  154. ALLOPURINOL [Suspect]
     Active Substance: ALLOPURINOL
     Dosage: 100 MILLIGRAM (1 EVERY 0.25 DAY)
  155. ALLOPURINOL [Suspect]
     Active Substance: ALLOPURINOL
     Dosage: 100 MILLIGRAM
  156. ALLOPURINOL [Suspect]
     Active Substance: ALLOPURINOL
     Dosage: 1 DOSAGE FORM
  157. ALLOPURINOL [Suspect]
     Active Substance: ALLOPURINOL
     Dosage: UNK  (1 EVERY 0.25 DAYS)
  158. ALLOPURINOL [Suspect]
     Active Substance: ALLOPURINOL
     Dosage: 1 DOSAGE FORM, QD (1 EVERY 1 DAY)
  159. ALUMINUM HYDROXIDE [Suspect]
     Active Substance: ALUMINUM HYDROXIDE
     Indication: Product used for unknown indication
     Dosage: UNK
  160. AMIODARONE [Suspect]
     Active Substance: AMIODARONE
     Indication: Ventricular fibrillation
     Dosage: 150 MILLIGRAM, QD
  161. AMIODARONE [Suspect]
     Active Substance: AMIODARONE
     Indication: Drug therapy
     Dosage: UNK, QD
  162. AMIODARONE [Suspect]
     Active Substance: AMIODARONE
     Dosage: 150 MICROGRAM, QD
  163. ARANESP [Suspect]
     Active Substance: DARBEPOETIN ALFA
     Indication: Product used for unknown indication
     Dosage: 0.71 MICROGRAM
  164. ARANESP [Suspect]
     Active Substance: DARBEPOETIN ALFA
     Dosage: UNK
  165. BISMUTH [Suspect]
     Active Substance: BISMUTH SUBSALICYLATE
     Indication: Product used for unknown indication
     Dosage: 133 MILLILITER
  166. BUFEXAMAC\LIDOCAINE HYDROCHLORIDE [Suspect]
     Active Substance: BUFEXAMAC\LIDOCAINE HYDROCHLORIDE
     Indication: Constipation
     Dosage: 133 MILLILITER
  167. CALCITRIOL [Suspect]
     Active Substance: CALCITRIOL
     Indication: Vitamin D abnormal
     Dosage: 0.25 MICROGRAM, QD
  168. CALCITRIOL [Suspect]
     Active Substance: CALCITRIOL
     Dosage: UNK, QD
  169. CALCITRIOL [Suspect]
     Active Substance: CALCITRIOL
     Dosage: 0.25 MICROGRAM, QD (1 EVERY 1 DAYS)
  170. FURAZOLIDONE [Suspect]
     Active Substance: FURAZOLIDONE
     Indication: Product used for unknown indication
     Dosage: 12.5 MILLIGRAM
  171. ALUMINUM HYDROXIDE\MAGNESIUM HYDROXIDE [Suspect]
     Active Substance: ALUMINUM HYDROXIDE\MAGNESIUM HYDROXIDE
     Indication: Constipation
     Dosage: 133 MILLIGRAM
  172. ALUMINUM HYDROXIDE\MAGNESIUM HYDROXIDE [Suspect]
     Active Substance: ALUMINUM HYDROXIDE\MAGNESIUM HYDROXIDE
     Indication: Nutritional supplementation
     Dosage: 133 MILLILITER
  173. ALUMINUM HYDROXIDE\MAGNESIUM HYDROXIDE [Suspect]
     Active Substance: ALUMINUM HYDROXIDE\MAGNESIUM HYDROXIDE
     Indication: Iron deficiency
     Dosage: 133 MILLIGRAM
  174. ALUMINUM HYDROXIDE\MAGNESIUM HYDROXIDE [Suspect]
     Active Substance: ALUMINUM HYDROXIDE\MAGNESIUM HYDROXIDE
     Dosage: UNK
  175. ALUMINUM HYDROXIDE\MAGNESIUM HYDROXIDE [Suspect]
     Active Substance: ALUMINUM HYDROXIDE\MAGNESIUM HYDROXIDE
     Indication: Constipation
     Dosage: 133 MILLILITER
  176. ALUMINUM HYDROXIDE\MAGNESIUM HYDROXIDE [Suspect]
     Active Substance: ALUMINUM HYDROXIDE\MAGNESIUM HYDROXIDE
     Indication: Intentional product misuse
     Dosage: UNK
  177. ASCORBIC ACID\PEG-3350\POTASSIUM CHLORIDE\SODIUM (ASCORBATE/CHLORIDE/S [Suspect]
     Active Substance: ASCORBIC ACID\POLYETHYLENE GLYCOL 3350\POTASSIUM CHLORIDE\SODIUM ASCORBATE\SODIUM CHLORIDE\SODIUM SU
     Indication: Constipation
     Dosage: 17 GRAM, QD (1 EVERY 24 HOURS)
  178. ASCORBIC ACID\PEG-3350\POTASSIUM CHLORIDE\SODIUM (ASCORBATE/CHLORIDE/S [Suspect]
     Active Substance: ASCORBIC ACID\POLYETHYLENE GLYCOL 3350\POTASSIUM CHLORIDE\SODIUM ASCORBATE\SODIUM CHLORIDE\SODIUM SU
     Dosage: 2.5 MILLILITER
  179. ASCORBIC ACID\PEG-3350\POTASSIUM CHLORIDE\SODIUM (ASCORBATE/CHLORIDE/S [Suspect]
     Active Substance: ASCORBIC ACID\POLYETHYLENE GLYCOL 3350\POTASSIUM CHLORIDE\SODIUM ASCORBATE\SODIUM CHLORIDE\SODIUM SU
     Indication: Constipation
     Dosage: UNK
  180. ASCORBIC ACID\PEG-3350\POTASSIUM CHLORIDE\SODIUM (ASCORBATE/CHLORIDE/S [Suspect]
     Active Substance: ASCORBIC ACID\POLYETHYLENE GLYCOL 3350\POTASSIUM CHLORIDE\SODIUM ASCORBATE\SODIUM CHLORIDE\SODIUM SU
     Indication: Nutritional supplementation
     Dosage: 17 MILLIGRAM, QD (1 EVERY 1 DAYS)
  181. ASCORBIC ACID\PEG-3350\POTASSIUM CHLORIDE\SODIUM (ASCORBATE/CHLORIDE/S [Suspect]
     Active Substance: ASCORBIC ACID\POLYETHYLENE GLYCOL 3350\POTASSIUM CHLORIDE\SODIUM ASCORBATE\SODIUM CHLORIDE\SODIUM SU
     Indication: Iron deficiency
     Dosage: UNK, QD (1 EVERY 1 DAYS)
  182. ASCORBIC ACID\PEG-3350\POTASSIUM CHLORIDE\SODIUM (ASCORBATE/CHLORIDE/S [Suspect]
     Active Substance: ASCORBIC ACID\POLYETHYLENE GLYCOL 3350\POTASSIUM CHLORIDE\SODIUM ASCORBATE\SODIUM CHLORIDE\SODIUM SU
     Dosage: 17 MILLIGRAM, QW (1 EVERY 1 WEEKS)
  183. ASCORBIC ACID\PEG-3350\POTASSIUM CHLORIDE\SODIUM (ASCORBATE/CHLORIDE/S [Suspect]
     Active Substance: ASCORBIC ACID\POLYETHYLENE GLYCOL 3350\POTASSIUM CHLORIDE\SODIUM ASCORBATE\SODIUM CHLORIDE\SODIUM SU
     Dosage: 12.5 GRAM
  184. ASCORBIC ACID\PEG-3350\POTASSIUM CHLORIDE\SODIUM (ASCORBATE/CHLORIDE/S [Suspect]
     Active Substance: ASCORBIC ACID\POLYETHYLENE GLYCOL 3350\POTASSIUM CHLORIDE\SODIUM ASCORBATE\SODIUM CHLORIDE\SODIUM SU
     Dosage: 17 MILLIGRAM
  185. ASCORBIC ACID\PEG-3350\POTASSIUM CHLORIDE\SODIUM (ASCORBATE/CHLORIDE/S [Suspect]
     Active Substance: ASCORBIC ACID\POLYETHYLENE GLYCOL 3350\POTASSIUM CHLORIDE\SODIUM ASCORBATE\SODIUM CHLORIDE\SODIUM SU
     Dosage: 2.5 MILLILITER
  186. ASCORBIC ACID\PEG-3350\POTASSIUM CHLORIDE\SODIUM (ASCORBATE/CHLORIDE/S [Suspect]
     Active Substance: ASCORBIC ACID\POLYETHYLENE GLYCOL 3350\POTASSIUM CHLORIDE\SODIUM ASCORBATE\SODIUM CHLORIDE\SODIUM SU
     Dosage: 12.5 GRAM
  187. ASCORBIC ACID\PEG-3350\POTASSIUM CHLORIDE\SODIUM (ASCORBATE/CHLORIDE/S [Suspect]
     Active Substance: ASCORBIC ACID\POLYETHYLENE GLYCOL 3350\POTASSIUM CHLORIDE\SODIUM ASCORBATE\SODIUM CHLORIDE\SODIUM SU
     Dosage: 3 MILLIGRAM
  188. ASCORBIC ACID\PEG-3350\POTASSIUM CHLORIDE\SODIUM (ASCORBATE/CHLORIDE/S [Suspect]
     Active Substance: ASCORBIC ACID\POLYETHYLENE GLYCOL 3350\POTASSIUM CHLORIDE\SODIUM ASCORBATE\SODIUM CHLORIDE\SODIUM SU
     Dosage: 17 MILLIGRAM, QD (1 EVERY 1 DAYS)
  189. ASCORBIC ACID\PEG-3350\POTASSIUM CHLORIDE\SODIUM (ASCORBATE/CHLORIDE/S [Suspect]
     Active Substance: ASCORBIC ACID\POLYETHYLENE GLYCOL 3350\POTASSIUM CHLORIDE\SODIUM ASCORBATE\SODIUM CHLORIDE\SODIUM SU
     Dosage: 5 MILLIGRAM
  190. ASCORBIC ACID\PEG-3350\POTASSIUM CHLORIDE\SODIUM (ASCORBATE/CHLORIDE/S [Suspect]
     Active Substance: ASCORBIC ACID\POLYETHYLENE GLYCOL 3350\POTASSIUM CHLORIDE\SODIUM ASCORBATE\SODIUM CHLORIDE\SODIUM SU
     Dosage: 17 GRAM, QD (1 EVERY 1 DAYS)
  191. ASCORBIC ACID\PEG-3350\POTASSIUM CHLORIDE\SODIUM (ASCORBATE/CHLORIDE/S [Suspect]
     Active Substance: ASCORBIC ACID\POLYETHYLENE GLYCOL 3350\POTASSIUM CHLORIDE\SODIUM ASCORBATE\SODIUM CHLORIDE\SODIUM SU
     Dosage: 2.5 MILLILITER, QW (1 EVERY 1 WEEKS)
  192. ASCORBIC ACID\PEG-3350\POTASSIUM CHLORIDE\SODIUM (ASCORBATE/CHLORIDE/S [Suspect]
     Active Substance: ASCORBIC ACID\POLYETHYLENE GLYCOL 3350\POTASSIUM CHLORIDE\SODIUM ASCORBATE\SODIUM CHLORIDE\SODIUM SU
     Dosage: UNK, QD (1 EVERY 1 DAYS)
  193. ASCORBIC ACID\PEG-3350\POTASSIUM CHLORIDE\SODIUM (ASCORBATE/CHLORIDE/S [Suspect]
     Active Substance: ASCORBIC ACID\POLYETHYLENE GLYCOL 3350\POTASSIUM CHLORIDE\SODIUM ASCORBATE\SODIUM CHLORIDE\SODIUM SU
     Dosage: 3 MILLIGRAM, QW (1 EVERY 1 WEEKS)
  194. ASCORBIC ACID\PEG-3350\POTASSIUM CHLORIDE\SODIUM (ASCORBATE/CHLORIDE/S [Suspect]
     Active Substance: ASCORBIC ACID\POLYETHYLENE GLYCOL 3350\POTASSIUM CHLORIDE\SODIUM ASCORBATE\SODIUM CHLORIDE\SODIUM SU
     Dosage: 1 DOSAGE FORM, (1 EVERY 6 HOURS)
  195. ASCORBIC ACID\PEG-3350\POTASSIUM CHLORIDE\SODIUM (ASCORBATE/CHLORIDE/S [Suspect]
     Active Substance: ASCORBIC ACID\POLYETHYLENE GLYCOL 3350\POTASSIUM CHLORIDE\SODIUM ASCORBATE\SODIUM CHLORIDE\SODIUM SU
     Dosage: 17 GRAM, QD (1 EVERY 1 DAYS)
  196. ASCORBIC ACID\PEG-3350\POTASSIUM CHLORIDE\SODIUM (ASCORBATE/CHLORIDE/S [Suspect]
     Active Substance: ASCORBIC ACID\POLYETHYLENE GLYCOL 3350\POTASSIUM CHLORIDE\SODIUM ASCORBATE\SODIUM CHLORIDE\SODIUM SU
     Dosage: 3 MILLIGRAM, QW (1 EVERY 1 WEEKS)
  197. ASCORBIC ACID\PEG-3350\POTASSIUM CHLORIDE\SODIUM (ASCORBATE/CHLORIDE/S [Suspect]
     Active Substance: ASCORBIC ACID\POLYETHYLENE GLYCOL 3350\POTASSIUM CHLORIDE\SODIUM ASCORBATE\SODIUM CHLORIDE\SODIUM SU
     Dosage: 2.5 MILLIGRAM
  198. ASCORBIC ACID\PEG-3350\POTASSIUM CHLORIDE\SODIUM (ASCORBATE/CHLORIDE/S [Suspect]
     Active Substance: ASCORBIC ACID\POLYETHYLENE GLYCOL 3350\POTASSIUM CHLORIDE\SODIUM ASCORBATE\SODIUM CHLORIDE\SODIUM SU
     Dosage: UNK
  199. ASCORBIC ACID\PEG-3350\POTASSIUM CHLORIDE\SODIUM (ASCORBATE/CHLORIDE/S [Suspect]
     Active Substance: ASCORBIC ACID\POLYETHYLENE GLYCOL 3350\POTASSIUM CHLORIDE\SODIUM ASCORBATE\SODIUM CHLORIDE\SODIUM SU
     Dosage: 2.5 MILLILITER
  200. CALCIUM [Suspect]
     Active Substance: CALCIUM
     Indication: Product used for unknown indication
     Dosage: UNK
  201. DEXILANT [Suspect]
     Active Substance: DEXLANSOPRAZOLE
     Indication: Product used for unknown indication
     Dosage: 60 MILLIGRAM, QD (1 EVERY 1 DAY)
  202. DEXLANSOPRAZOLE [Suspect]
     Active Substance: DEXLANSOPRAZOLE
     Indication: Product used for unknown indication
     Dosage: 60 MILLIGRAM, QD (1 EVERY 1 DAYS)
  203. DEXLANSOPRAZOLE [Suspect]
     Active Substance: DEXLANSOPRAZOLE
     Dosage: 6 DOSAGE FORM, Q6H (1 EVERY 6 HOURS)
  204. DEXLANSOPRAZOLE [Suspect]
     Active Substance: DEXLANSOPRAZOLE
     Dosage: UNK
  205. DEXLANSOPRAZOLE [Suspect]
     Active Substance: DEXLANSOPRAZOLE
     Dosage: 60 MILLIGRAM, QD (1 EVERY 1 DAYS)
  206. DEXLANSOPRAZOLE [Suspect]
     Active Substance: DEXLANSOPRAZOLE
     Indication: Product used for unknown indication
     Dosage: UNK
  207. DEXLANSOPRAZOLE [Suspect]
     Active Substance: DEXLANSOPRAZOLE
     Dosage: 60 MILLIGRAM, QD
  208. DEXTROSE [Suspect]
     Active Substance: DEXTROSE MONOHYDRATE
     Indication: Nutritional supplementation
     Dosage: 12.5 MILLIGRAM
  209. DEXTROSE [Suspect]
     Active Substance: DEXTROSE MONOHYDRATE
     Indication: Vitamin supplementation
     Dosage: 12 GRAM, QD (1 EVERY 1 DAYS)
  210. DEXTROSE [Suspect]
     Active Substance: DEXTROSE MONOHYDRATE
     Dosage: 1 DOSAGE FORM, QD (1 EVERY 1 DAYS)
  211. DEXTROSE [Suspect]
     Active Substance: DEXTROSE MONOHYDRATE
     Dosage: 12.5 MILLIGRAM, QD
  212. DEXTROSE [Suspect]
     Active Substance: DEXTROSE MONOHYDRATE
     Dosage: 12.5 GRAM PRN (DEXTROSE)
  213. DEXTROSE [Suspect]
     Active Substance: DEXTROSE MONOHYDRATE
     Dosage: 12.5 MILLIGRAM, QD (1 EVERY 1 DAYS)
  214. DEXTROSE [Suspect]
     Active Substance: DEXTROSE MONOHYDRATE
     Dosage: 12.5 GRAM
  215. DEXTROSE [Suspect]
     Active Substance: DEXTROSE MONOHYDRATE
     Dosage: 50 MILLILITER
  216. DEXTROSE [Suspect]
     Active Substance: DEXTROSE MONOHYDRATE
     Dosage: 50 MILLILITER, QD (1 EVERY 1 DAYS)
  217. DEXTROSE [Suspect]
     Active Substance: DEXTROSE MONOHYDRATE
     Dosage: 250 MILLILITER, QD (1 EVERY 1 DAYS)
  218. DEXTROSE [Suspect]
     Active Substance: DEXTROSE MONOHYDRATE
     Dosage: 12.5 MILLIGRAM
  219. DEXTROSE [Suspect]
     Active Substance: DEXTROSE MONOHYDRATE
     Dosage: 12.5 GRAM, QD (1 EVERY 1 DAYS)
  220. DEXTROSE [Suspect]
     Active Substance: DEXTROSE MONOHYDRATE
     Dosage: 12.5 MILLIGRAM, QD (1 EVERY 1 DAYS)
  221. DEXTROSE [Suspect]
     Active Substance: DEXTROSE MONOHYDRATE
     Dosage: UNK
  222. DEXTROSE [Suspect]
     Active Substance: DEXTROSE MONOHYDRATE
     Dosage: 12.5 MILLIGRAM (1 EVERY 0. 25 DAYS)
  223. DEXTROSE [Suspect]
     Active Substance: DEXTROSE MONOHYDRATE
     Dosage: 1 DOSAGE FORM (1 EVERY 0. 25 DAYS)
  224. DEXTROSE [Suspect]
     Active Substance: DEXTROSE MONOHYDRATE
     Dosage: 12.5 GRAM (1 EVERY 0. 25 DAYS)
  225. DEXTROSE [Suspect]
     Active Substance: DEXTROSE MONOHYDRATE
     Indication: Nutritional supplementation
     Dosage: 12.5 GRAM
  226. UNSPECIFIED INGREDIENT [Suspect]
     Active Substance: UNSPECIFIED INGREDIENT
     Indication: Product used for unknown indication
     Dosage: 250 MILLILITER, QD
  227. HYDROMORPHONE [Suspect]
     Active Substance: HYDROMORPHONE
     Indication: Product used for unknown indication
     Dosage: 6 MILLIGRAM (1 EVERY 0.25 DAY)
  228. HYDROMORPHONE [Suspect]
     Active Substance: HYDROMORPHONE
     Dosage: 1 MILLIGRAM
  229. INSULIN DEGLUDEC [Suspect]
     Active Substance: INSULIN DEGLUDEC
     Indication: Diabetes mellitus
     Dosage: UNK
  230. IRON [Suspect]
     Active Substance: IRON
     Indication: Product used for unknown indication
     Dosage: 1 DOSAGE FORM, Q6H
  231. LANSOPRAZOLE [Suspect]
     Active Substance: LANSOPRAZOLE
     Indication: Antacid therapy
     Dosage: 30 MILLIGRAM, QD
  232. LANSOPRAZOLE [Suspect]
     Active Substance: LANSOPRAZOLE
     Indication: Gastric pH decreased
     Dosage: UNK, QD
  233. LANSOPRAZOLE [Suspect]
     Active Substance: LANSOPRAZOLE
     Dosage: 30 MILLIGRAM
  234. LANSOPRAZOLE [Suspect]
     Active Substance: LANSOPRAZOLE
     Dosage: 30 MG, QD
  235. LANSOPRAZOLE [Suspect]
     Active Substance: LANSOPRAZOLE
     Dosage: UNK
  236. LANSOPRAZOLE [Suspect]
     Active Substance: LANSOPRAZOLE
     Indication: Antacid therapy
     Dosage: 30 MILLIGRAM, QD
  237. LANSOPRAZOLE [Suspect]
     Active Substance: LANSOPRAZOLE
     Indication: Gastric pH decreased
     Dosage: UNK
  238. LANSOPRAZOLE [Suspect]
     Active Substance: LANSOPRAZOLE
     Indication: Off label use
     Dosage: 30 MILLIGRAM, QD (1 EVERY 1 DAY)
  239. LANSOPRAZOLE [Suspect]
     Active Substance: LANSOPRAZOLE
     Indication: Intentional product misuse
     Dosage: 30 MILLIGRAM, QD (1 EVERY 1 DAY)
  240. LANSOPRAZOLE [Suspect]
     Active Substance: LANSOPRAZOLE
     Dosage: 30 MILLIGRAM
  241. LANSOPRAZOLE [Suspect]
     Active Substance: LANSOPRAZOLE
     Dosage: UNK
  242. LANSOPRAZOLE [Suspect]
     Active Substance: LANSOPRAZOLE
     Dosage: UNK, QD (1 EVERY 1 DAYS)
  243. LANSOPRAZOLE [Suspect]
     Active Substance: LANSOPRAZOLE
     Dosage: 60 MILLIGRAM, QD (1 EVERY 1 DAY)
  244. LANSOPRAZOLE [Suspect]
     Active Substance: LANSOPRAZOLE
     Dosage: UNK, Q6H  (1 EVERY 6 HOURS)
  245. LANSOPRAZOLE [Suspect]
     Active Substance: LANSOPRAZOLE
     Dosage: UNK, QD (1 EVERY 1 DAYS)
  246. LANSOPRAZOLE [Suspect]
     Active Substance: LANSOPRAZOLE
     Dosage: 30 MILLIGRAM, QD (1 EVERY 1 DAY)
  247. LANSOPRAZOLE [Suspect]
     Active Substance: LANSOPRAZOLE
     Indication: Antacid therapy
     Dosage: 30 MILLIGRAM (1 EVERY 0. 25 DAYS)
  248. LANSOPRAZOLE [Suspect]
     Active Substance: LANSOPRAZOLE
     Dosage: 30 MILLIGRAM (1 EVERY 0. 25 DAYS)
  249. LANSOPRAZOLE [Suspect]
     Active Substance: LANSOPRAZOLE
     Dosage: UNK, (1 EVERY 0. 25 DAYS)
  250. LANSOPRAZOLE [Suspect]
     Active Substance: LANSOPRAZOLE
     Dosage: 30 MILLIGRAM
  251. LANTHANUM CARBONATE [Suspect]
     Active Substance: LANTHANUM CARBONATE
     Indication: Hyperphosphataemia
     Dosage: 500 MICROGRAM, QD (1 EVERY 1 DAYS)
  252. LANTHANUM CARBONATE [Suspect]
     Active Substance: LANTHANUM CARBONATE
     Indication: Blood phosphorus increased
     Dosage: 500 MICROGRAM
  253. LANTHANUM CARBONATE [Suspect]
     Active Substance: LANTHANUM CARBONATE
     Indication: Off label use
     Dosage: 500 MILLIGRAM, QD (1 EVERY 1 DAYS)
  254. LANTHANUM CARBONATE [Suspect]
     Active Substance: LANTHANUM CARBONATE
     Dosage: 500 MILLIGRAM
  255. LANTHANUM CARBONATE [Suspect]
     Active Substance: LANTHANUM CARBONATE
     Dosage: 500 MICROGRAM, QD (1 EVERY 1 DAYS)
  256. LANTHANUM CARBONATE [Suspect]
     Active Substance: LANTHANUM CARBONATE
     Dosage: 500 MICROGRAM, Q8H ((1 EVERY 8 HOURS)
  257. LANTHANUM CARBONATE [Suspect]
     Active Substance: LANTHANUM CARBONATE
     Dosage: 550 MILLIGRAM, QD (1 EVERY 1 DAYS)
  258. LANTHANUM CARBONATE [Suspect]
     Active Substance: LANTHANUM CARBONATE
     Dosage: UNK
  259. LANTHANUM CARBONATE [Suspect]
     Active Substance: LANTHANUM CARBONATE
     Dosage: UNK
  260. LANTHANUM CARBONATE [Suspect]
     Active Substance: LANTHANUM CARBONATE
     Dosage: UNK, QD (1 EVERY 1 DAYS)
  261. LANTHANUM CARBONATE [Suspect]
     Active Substance: LANTHANUM CARBONATE
     Dosage: UNK
  262. LANTHANUM CARBONATE [Suspect]
     Active Substance: LANTHANUM CARBONATE
     Dosage: 500 MILLIGRAM
  263. LANTHANUM CARBONATE [Suspect]
     Active Substance: LANTHANUM CARBONATE
     Dosage: 550 MICROGRAM, QD (1 EVERY 1 DAYS)
  264. LANTHANUM CARBONATE [Suspect]
     Active Substance: LANTHANUM CARBONATE
     Dosage: 550 MICROGRAM, Q8H (1 EVERY 8 HOURS)
  265. LANTHANUM CARBONATE [Suspect]
     Active Substance: LANTHANUM CARBONATE
     Dosage: 500 MILLIGRAM, QD (1 EVERY 1 DAYS)
  266. LANTHANUM CARBONATE [Suspect]
     Active Substance: LANTHANUM CARBONATE
     Indication: Hyperphosphataemia
     Dosage: 500 MILLIGRAM, QD (1 EVERY 1 DAYS)
  267. LANTHANUM CARBONATE [Suspect]
     Active Substance: LANTHANUM CARBONATE
     Indication: Blood phosphorus increased
     Dosage: 500 MILLIGRAM
  268. DEXTROSE\SODIUM CHLORIDE [Suspect]
     Active Substance: DEXTROSE\SODIUM CHLORIDE
     Indication: Product used for unknown indication
     Dosage: 12.5 GRAM, QD (1 EVERY 1 DAYS)
  269. DEXTROSE\SODIUM CHLORIDE [Suspect]
     Active Substance: DEXTROSE\SODIUM CHLORIDE
     Dosage: UNK
  270. DEXTROSE\SODIUM CHLORIDE [Suspect]
     Active Substance: DEXTROSE\SODIUM CHLORIDE
     Dosage: 12.5 MILLIGRAM
  271. LIDOCAINE [Suspect]
     Active Substance: LIDOCAINE
     Indication: Product used for unknown indication
     Dosage: UNK
  272. POLYETHYLENE GLYCOLS [Suspect]
     Active Substance: POLYETHYLENE GLYCOLS
     Indication: Iron deficiency
     Dosage: EVERY EVENING 17 G, QD
  273. POLYETHYLENE GLYCOLS [Suspect]
     Active Substance: POLYETHYLENE GLYCOLS
     Indication: Constipation
     Dosage: 17 GRAM, QD
  274. POLYETHYLENE GLYCOLS [Suspect]
     Active Substance: POLYETHYLENE GLYCOLS
     Indication: Nutritional supplementation
     Dosage: 17 MILLIGRAM, QD
  275. POLYETHYLENE GLYCOLS [Suspect]
     Active Substance: POLYETHYLENE GLYCOLS
     Dosage: 17 MILLIGRAM
  276. POLYETHYLENE GLYCOLS [Suspect]
     Active Substance: POLYETHYLENE GLYCOLS
     Dosage: UNK, QD
  277. POLYETHYLENE GLYCOLS [Suspect]
     Active Substance: POLYETHYLENE GLYCOLS
     Dosage: 17 MILLIGRAM (1 EVERY 0. 25 DAYS)
  278. POLYETHYLENE GLYCOLS [Suspect]
     Active Substance: POLYETHYLENE GLYCOLS
     Dosage: 17 MILLIGRAM (1 EVERY 0. 25 DAYS)
  279. POLYETHYLENE GLYCOLS [Suspect]
     Active Substance: POLYETHYLENE GLYCOLS
     Dosage: UNK (1 EVERY 0. 25 DAYS)
  280. POLYETHYLENE GLYCOLS [Suspect]
     Active Substance: POLYETHYLENE GLYCOLS
     Dosage: 17 GRAM (1 EVERY 0. 25 DAYS)
  281. POLYETHYLENE GLYCOLS [Suspect]
     Active Substance: POLYETHYLENE GLYCOLS
     Dosage: 17 GRAM (1 EVERY 0. 25 DAYS)
  282. POLYETHYLENE GLYCOLS [Suspect]
     Active Substance: POLYETHYLENE GLYCOLS
     Dosage: 2.5 MILLILITER
  283. POLYETHYLENE GLYCOLS [Suspect]
     Active Substance: POLYETHYLENE GLYCOLS
     Dosage: 3 MILLIGRAM, QW (1 EVERY 1 WEEK)
  284. POLYETHYLENE GLYCOLS [Suspect]
     Active Substance: POLYETHYLENE GLYCOLS
     Dosage: UNK (1 EVERY 0. 25 DAYS)
  285. POLYETHYLENE GLYCOLS [Suspect]
     Active Substance: POLYETHYLENE GLYCOLS
     Dosage: 1 DOSAGE FORM
  286. POLYETHYLENE GLYCOLS [Suspect]
     Active Substance: POLYETHYLENE GLYCOLS
     Dosage: UNK
  287. POLYETHYLENE GLYCOLS [Suspect]
     Active Substance: POLYETHYLENE GLYCOLS
     Dosage: UNK (1 EVERY 0. 25 DAYS)
  288. POLYETHYLENE GLYCOLS [Suspect]
     Active Substance: POLYETHYLENE GLYCOLS
     Dosage: 3 MILLIGRAM, QW (1 EVERY 1 WEEK)
  289. POLYETHYLENE GLYCOLS [Suspect]
     Active Substance: POLYETHYLENE GLYCOLS
     Dosage: 2.5 MILLILITER
  290. POLYETHYLENE GLYCOL 3350\POTASSIUM CHLORIDE\SODIUM BICARBONATE\SODIUM [Suspect]
     Active Substance: POLYETHYLENE GLYCOL 3350\POTASSIUM CHLORIDE\SODIUM BICARBONATE\SODIUM CHLORIDE
     Indication: Product used for unknown indication
     Dosage: 17 GRAM (1 EVERY 0. 25 DAYS)
  291. MAGNESIUM HYDROXIDE [Suspect]
     Active Substance: MAGNESIUM HYDROXIDE
     Indication: Constipation
     Dosage: 133 MILLILITER
  292. MANNITOL [Suspect]
     Active Substance: MANNITOL
     Indication: Product used for unknown indication
     Dosage: 12.5 GRAM
  293. MELATONIN [Suspect]
     Active Substance: MELATONIN
     Indication: Sleep disorder therapy
     Dosage: 3 MILLIGRAM, QD
  294. MELATONIN [Suspect]
     Active Substance: MELATONIN
     Dosage: 3 MILLIGRAM, QD (1 EVERY 1 DAYS)
  295. ONDANSETRON HYDROCHLORIDE [Suspect]
     Active Substance: ONDANSETRON HYDROCHLORIDE
     Indication: Vomiting
     Dosage: 12 MILLIGRAM
  296. ONDANSETRON HYDROCHLORIDE [Suspect]
     Active Substance: ONDANSETRON HYDROCHLORIDE
     Indication: Nausea
     Dosage: 40 MILLIGRAM
  297. ONDANSETRON HYDROCHLORIDE [Suspect]
     Active Substance: ONDANSETRON HYDROCHLORIDE
     Dosage: 12 DOSAGE FORM (1 EVERY 0.25 DAYS)
  298. ONDANSETRON HYDROCHLORIDE [Suspect]
     Active Substance: ONDANSETRON HYDROCHLORIDE
     Dosage: 72 MILLIGRAM
  299. ONDANSETRON HYDROCHLORIDE [Suspect]
     Active Substance: ONDANSETRON HYDROCHLORIDE
     Dosage: 120 MILLIGRAM
  300. ONDANSETRON HYDROCHLORIDE [Suspect]
     Active Substance: ONDANSETRON HYDROCHLORIDE
     Dosage: 12 MILLIGRAM
  301. ONDANSETRON HYDROCHLORIDE [Suspect]
     Active Substance: ONDANSETRON HYDROCHLORIDE
     Dosage: 36 MILLIGRAM
  302. ONDANSETRON HYDROCHLORIDE [Suspect]
     Active Substance: ONDANSETRON HYDROCHLORIDE
     Dosage: 41.14 MILLIGRAM
  303. ONDANSETRON HYDROCHLORIDE [Suspect]
     Active Substance: ONDANSETRON HYDROCHLORIDE
     Dosage: 4 MILLIGRAM (1 EVERY 0. 25 DAYS)
  304. ONDANSETRON HYDROCHLORIDE [Suspect]
     Active Substance: ONDANSETRON HYDROCHLORIDE
     Dosage: 1 DOSAGE FORM
  305. ONDANSETRON HYDROCHLORIDE [Suspect]
     Active Substance: ONDANSETRON HYDROCHLORIDE
     Dosage: 40 MILLIGRAM
  306. ONDANSETRON HYDROCHLORIDE [Suspect]
     Active Substance: ONDANSETRON HYDROCHLORIDE
     Dosage: 14.14 MILLIGRAM
  307. ONDANSETRON HYDROCHLORIDE [Suspect]
     Active Substance: ONDANSETRON HYDROCHLORIDE
     Dosage: 8 MILLIGRAM
  308. ONDANSETRON HYDROCHLORIDE [Suspect]
     Active Substance: ONDANSETRON HYDROCHLORIDE
     Dosage: 41.4 MILLIGRAM
  309. ONDANSETRON HYDROCHLORIDE [Suspect]
     Active Substance: ONDANSETRON HYDROCHLORIDE
     Dosage: 1 DOSAGE FORM
  310. ONDANSETRON HYDROCHLORIDE [Suspect]
     Active Substance: ONDANSETRON HYDROCHLORIDE
     Dosage: 24 MILLIGRAM
  311. ONDANSETRON HYDROCHLORIDE [Suspect]
     Active Substance: ONDANSETRON HYDROCHLORIDE
     Dosage: 3 MILLIGRAM
  312. ONDANSETRON HYDROCHLORIDE [Suspect]
     Active Substance: ONDANSETRON HYDROCHLORIDE
     Dosage: 4 MILLIGRAM
  313. ONDANSETRON HYDROCHLORIDE [Suspect]
     Active Substance: ONDANSETRON HYDROCHLORIDE
     Dosage: 12 MILLIGRAM
  314. ONDANSETRON HYDROCHLORIDE [Suspect]
     Active Substance: ONDANSETRON HYDROCHLORIDE
     Dosage: 12 MILLIGRAM, QD (1 EVERY 1 DAYS)
  315. ONDANSETRON HYDROCHLORIDE [Suspect]
     Active Substance: ONDANSETRON HYDROCHLORIDE
     Dosage: UNK
  316. ONDANSETRON HYDROCHLORIDE [Suspect]
     Active Substance: ONDANSETRON HYDROCHLORIDE
     Dosage: 12 DOSAGE FORM
  317. ONDANSETRON HYDROCHLORIDE [Suspect]
     Active Substance: ONDANSETRON HYDROCHLORIDE
     Dosage: 1 DOSAGE FORM
  318. ONDANSETRON HYDROCHLORIDE [Suspect]
     Active Substance: ONDANSETRON HYDROCHLORIDE
     Dosage: 36 MILLIGRAM
  319. ONDANSETRON HYDROCHLORIDE [Suspect]
     Active Substance: ONDANSETRON HYDROCHLORIDE
     Dosage: 4 MILLIGRAM
  320. ONDANSETRON HYDROCHLORIDE [Suspect]
     Active Substance: ONDANSETRON HYDROCHLORIDE
     Dosage: 41.1 MILLIGRAM
  321. ONDANSETRON HYDROCHLORIDE [Suspect]
     Active Substance: ONDANSETRON HYDROCHLORIDE
     Dosage: 24 MILLIGRAM
  322. ONDANSETRON HYDROCHLORIDE [Suspect]
     Active Substance: ONDANSETRON HYDROCHLORIDE
     Dosage: 1 DOSAGE FORM (1 EVERY 0.25 DAYS)
  323. ONDANSETRON HYDROCHLORIDE [Suspect]
     Active Substance: ONDANSETRON HYDROCHLORIDE
     Dosage: 41.14 MILLIGRAM
  324. ONDANSETRON HYDROCHLORIDE [Suspect]
     Active Substance: ONDANSETRON HYDROCHLORIDE
     Dosage: 1 DOSAGE FORM (1 EVERY 0.25 DAYS)
  325. ONDANSETRON HYDROCHLORIDE [Suspect]
     Active Substance: ONDANSETRON HYDROCHLORIDE
     Dosage: UNK
  326. ONDANSETRON HYDROCHLORIDE [Suspect]
     Active Substance: ONDANSETRON HYDROCHLORIDE
     Dosage: 14 DOSAGE FORM
  327. ONDANSETRON HYDROCHLORIDE [Suspect]
     Active Substance: ONDANSETRON HYDROCHLORIDE
     Dosage: 36 MILLIGRAM (1 EVERY 0.25 DAYS)
  328. ONDANSETRON HYDROCHLORIDE [Suspect]
     Active Substance: ONDANSETRON HYDROCHLORIDE
     Dosage: 108 MILLIGRAM
  329. OSELTAMIVIR PHOSPHATE [Suspect]
     Active Substance: OSELTAMIVIR PHOSPHATE
     Indication: Product used for unknown indication
     Dosage: 133 MILLILITER
  330. OTRIVIN [Suspect]
     Active Substance: XYLOMETAZOLINE
     Indication: Product used for unknown indication
     Dosage: 4 MILLIGRAM, MONTHLY
  331. OTRIVIN [Suspect]
     Active Substance: XYLOMETAZOLINE
     Dosage: 125 MILLIGRAM, QD
  332. OTRIVIN [Suspect]
     Active Substance: XYLOMETAZOLINE
     Dosage: 17.85 MILLIGRAM
  333. POLYETHYLENE GLYCOL 4000 [Suspect]
     Active Substance: POLYETHYLENE GLYCOL 4000
     Indication: Constipation
     Dosage: 17 MILLIGRAM, QD (1 EVERY 1 DAYS)
  334. POLYETHYLENE GLYCOL 4000 [Suspect]
     Active Substance: POLYETHYLENE GLYCOL 4000
     Indication: Iron deficiency
     Dosage: 17 GRAM, QD (1 EVERY 1 DAYS)
  335. POLYETHYLENE GLYCOL 4000 [Suspect]
     Active Substance: POLYETHYLENE GLYCOL 4000
     Dosage: 3 MILLIGRAM
  336. POLYETHYLENE GLYCOL 4000 [Suspect]
     Active Substance: POLYETHYLENE GLYCOL 4000
     Dosage: 1 DOSAGE FORM, Q6H (1 EVERY 6 HOURS)
  337. POLYETHYLENE GLYCOL 4000 [Suspect]
     Active Substance: POLYETHYLENE GLYCOL 4000
     Dosage: 3 GRAM, QW (1 EVERY 1 WEEKS)
  338. POLYETHYLENE GLYCOL 4000 [Suspect]
     Active Substance: POLYETHYLENE GLYCOL 4000
     Dosage: 2.5 MILLIGRAM
  339. POLYETHYLENE GLYCOL 4000 [Suspect]
     Active Substance: POLYETHYLENE GLYCOL 4000
     Dosage: 5 MILLIGRAM
  340. POLYETHYLENE GLYCOL 4000 [Suspect]
     Active Substance: POLYETHYLENE GLYCOL 4000
     Dosage: 2.5 MILLILITER
  341. POLYETHYLENE GLYCOL 4000 [Suspect]
     Active Substance: POLYETHYLENE GLYCOL 4000
     Dosage: UNK, QD (1 EVERY 1 DAYS)
  342. POLYETHYLENE GLYCOL 4000 [Suspect]
     Active Substance: POLYETHYLENE GLYCOL 4000
     Dosage: UNK, QD (1 EVERY 1 DAYS)
  343. POLYETHYLENE GLYCOL 4000 [Suspect]
     Active Substance: POLYETHYLENE GLYCOL 4000
     Dosage: UNK
  344. POLYETHYLENE GLYCOL 4000 [Suspect]
     Active Substance: POLYETHYLENE GLYCOL 4000
     Dosage: 17 MILLIGRAM (1 EVERY 0. 25 MILLIGRAM)
  345. PYRIDOXINE HYDROCHLORIDE [Suspect]
     Active Substance: PYRIDOXINE HYDROCHLORIDE
     Indication: Analgesic therapy
     Dosage: UNK
  346. PYRIDOXINE HYDROCHLORIDE [Suspect]
     Active Substance: PYRIDOXINE HYDROCHLORIDE
     Indication: Constipation
     Dosage: UNK
  347. PYRIDOXINE HYDROCHLORIDE [Suspect]
     Active Substance: PYRIDOXINE HYDROCHLORIDE
     Indication: Vitamin supplementation
     Dosage: 10 MILLIGRAM
  348. ONDANSETRON [Suspect]
     Active Substance: ONDANSETRON
     Indication: Vomiting
     Dosage: 12 MILLIGRAM, Q8H (1 EVERY 8 HOURS)
  349. ONDANSETRON [Suspect]
     Active Substance: ONDANSETRON
     Indication: Nausea
     Dosage: 41.4 MILLIGRAM
  350. ONDANSETRON [Suspect]
     Active Substance: ONDANSETRON
     Indication: Off label use
     Dosage: 40 MILLIGRAM, Q8H (1 EVERY 8 HOURS)
  351. ONDANSETRON [Suspect]
     Active Substance: ONDANSETRON
     Dosage: 12 MILLIGRAM, QD (1 EVERY 1 DAY)
  352. ONDANSETRON [Suspect]
     Active Substance: ONDANSETRON
     Dosage: 12 MILLIGRAM, TID (3 EVERY 1 DAY)
  353. ONDANSETRON [Suspect]
     Active Substance: ONDANSETRON
     Dosage: 36 MILLIGRAM, Q8H (1 EVERY 8 HOURS)
  354. ONDANSETRON [Suspect]
     Active Substance: ONDANSETRON
     Dosage: 4 MILLIGRAM, QD (1 EVERY 1 DAY)
     Dates: start: 20200601
  355. ONDANSETRON [Suspect]
     Active Substance: ONDANSETRON
     Dosage: 14.14 MILLIGRAM, Q8H
  356. ONDANSETRON [Suspect]
     Active Substance: ONDANSETRON
     Dosage: 8 MILLIGRAM, Q8H (1 EVERY 8 HOURS)
  357. ONDANSETRON [Suspect]
     Active Substance: ONDANSETRON
     Dosage: 41.14 MILLIGRAM, Q8H (1 EVERY 8 HOURS)
  358. ONDANSETRON [Suspect]
     Active Substance: ONDANSETRON
     Dosage: 41.4 MILLIGRAM
  359. ONDANSETRON [Suspect]
     Active Substance: ONDANSETRON
     Dosage: 36 MILLIGRAM, QD (1 EVERY 1 DAY)
  360. ONDANSETRON [Suspect]
     Active Substance: ONDANSETRON
     Dosage: 4 MILLIGRAM, Q8H (1 EVERY 8 HOURS)
  361. ONDANSETRON [Suspect]
     Active Substance: ONDANSETRON
     Dosage: 40 MILLIGRAM
  362. ONDANSETRON [Suspect]
     Active Substance: ONDANSETRON
     Dosage: 24 MILLIGRAM, Q8H (1 EVERY 8 HOURS)
  363. ONDANSETRON [Suspect]
     Active Substance: ONDANSETRON
     Dosage: 24 MILLIGRAM, QD (1 EVERY 1 DAY)
  364. ONDANSETRON [Suspect]
     Active Substance: ONDANSETRON
     Dosage: 1 DOSAGE FORM, Q8H (1 EVERY 8 HOURS)
  365. ONDANSETRON [Suspect]
     Active Substance: ONDANSETRON
     Dosage: 36 MILLIGRAM, TID (3 EVERY 1 DAY)
  366. ONDANSETRON [Suspect]
     Active Substance: ONDANSETRON
     Dosage: 123.3 MILLIGRAM, QD (1 EVERY 1 DAY)
  367. ONDANSETRON [Suspect]
     Active Substance: ONDANSETRON
     Dosage: 17 MILLIGRAM, QD
     Dates: start: 20200601
  368. ONDANSETRON [Suspect]
     Active Substance: ONDANSETRON
     Dosage: 36 MILLIGRAM
  369. ONDANSETRON [Suspect]
     Active Substance: ONDANSETRON
     Dosage: 40 MILLIGRAM
  370. ONDANSETRON [Suspect]
     Active Substance: ONDANSETRON
     Dosage: UNK
  371. ONDANSETRON [Suspect]
     Active Substance: ONDANSETRON
     Dosage: 24 MILLIGRAM
  372. ONDANSETRON [Suspect]
     Active Substance: ONDANSETRON
     Dosage: 4 MILLIGRAM
  373. ONDANSETRON [Suspect]
     Active Substance: ONDANSETRON
     Dosage: 41.1 MILLIGRAM
  374. ONDANSETRON [Suspect]
     Active Substance: ONDANSETRON
     Dosage: UNK, Q8H (1 EVERY 8 HOURS)
  375. ONDANSETRON [Suspect]
     Active Substance: ONDANSETRON
     Dosage: 4 MILLIGRAM, TID (3 EVERY 1 DAY)
  376. ONDANSETRON [Suspect]
     Active Substance: ONDANSETRON
     Dosage: 12 MILLIGRAM
  377. ONDANSETRON [Suspect]
     Active Substance: ONDANSETRON
     Dosage: 12 DOSAGE FORM
  378. ONDANSETRON [Suspect]
     Active Substance: ONDANSETRON
     Dosage: 12 MILLIGRAM
  379. ONDANSETRON [Suspect]
     Active Substance: ONDANSETRON
     Dosage: 72 MILLIGRAM
  380. ONDANSETRON [Suspect]
     Active Substance: ONDANSETRON
     Dosage: 120 MILLIGRAM
  381. ONDANSETRON [Suspect]
     Active Substance: ONDANSETRON
     Dosage: 14 DOSAGE FORM
  382. ONDANSETRON [Suspect]
     Active Substance: ONDANSETRON
     Dosage: 8 MILLIGRAM
  383. ONDANSETRON [Suspect]
     Active Substance: ONDANSETRON
     Dosage: 41.14 MILLIGRAM
  384. ONDANSETRON [Suspect]
     Active Substance: ONDANSETRON
     Dosage: 1 DOSAGE FORM
  385. ONDANSETRON [Suspect]
     Active Substance: ONDANSETRON
     Dosage: 24 MILLIGRAM
  386. ONDANSETRON [Suspect]
     Active Substance: ONDANSETRON
     Dosage: 3 MILLIGRAM
  387. ONDANSETRON [Suspect]
     Active Substance: ONDANSETRON
     Dosage: UNK
  388. ONDANSETRON [Suspect]
     Active Substance: ONDANSETRON
     Dosage: 4 MILLIGRAM
  389. ONDANSETRON [Suspect]
     Active Substance: ONDANSETRON
     Dosage: 36 MILLIGRAM
  390. ONDANSETRON [Suspect]
     Active Substance: ONDANSETRON
     Dosage: 41.14 MILLIGRAM
  391. ONDANSETRON [Suspect]
     Active Substance: ONDANSETRON
     Dosage: 108 MILLIGRAM
  392. ONDANSETRON [Suspect]
     Active Substance: ONDANSETRON
     Dosage: 17 MILLIGRAM, QD
  393. ONDANSETRON [Suspect]
     Active Substance: ONDANSETRON
     Dosage: 1 DOSAGE FORM
  394. ONDANSETRON [Suspect]
     Active Substance: ONDANSETRON
     Dosage: 36 MILLIGRAM, Q8H (1 EVERY 8 HOUR)
  395. ONDANSETRON [Suspect]
     Active Substance: ONDANSETRON
     Dosage: 8 MILLIGRAM
  396. ONDANSETRON [Suspect]
     Active Substance: ONDANSETRON
     Dosage: 60 MILLIGRAM
  397. ONDANSETRON [Suspect]
     Active Substance: ONDANSETRON
     Dosage: 14.14 MILLIGRAM
  398. ONDANSETRON [Suspect]
     Active Substance: ONDANSETRON
     Indication: Vomiting
     Dosage: 4 MILLIGRAM, QD (1 EVERY 1 DAYS)
  399. ONDANSETRON [Suspect]
     Active Substance: ONDANSETRON
     Indication: Nausea
     Dosage: 60 MILLIGRAM
  400. ONDANSETRON [Suspect]
     Active Substance: ONDANSETRON
     Dosage: 108 MILLIGRAM
  401. ONDANSETRON [Suspect]
     Active Substance: ONDANSETRON
     Dosage: 1 DOSAGE FORM, Q6H
  402. SIMVASTATIN [Suspect]
     Active Substance: SIMVASTATIN
     Indication: Vitamin supplementation
     Dosage: 40 MILLIGRAM, QD (DAILY)
  403. SIMVASTATIN [Suspect]
     Active Substance: SIMVASTATIN
     Indication: Blood cholesterol increased
     Dosage: UNK
  404. SIMVASTATIN [Suspect]
     Active Substance: SIMVASTATIN
     Dosage: 40 MILLIGRAM QD (AT BED TIME)
     Dates: start: 20200527
  405. SIMVASTATIN [Suspect]
     Active Substance: SIMVASTATIN
     Indication: Blood cholesterol increased
     Dosage: 40 MILLIGRAM, QD
  406. SIMVASTATIN [Suspect]
     Active Substance: SIMVASTATIN
     Indication: Vitamin supplementation
  407. SIMVASTATIN [Suspect]
     Active Substance: SIMVASTATIN
     Indication: Product used for unknown indication
     Dosage: 40 MILLIGRAM, QD
  408. SIMVASTATIN [Suspect]
     Active Substance: SIMVASTATIN
     Indication: Vitamin supplementation
     Dosage: 40 MILLIGRAM, QD (1 EVERY 1 DAYS)
  409. SIMVASTATIN [Suspect]
     Active Substance: SIMVASTATIN
     Indication: Blood cholesterol increased
     Dosage: 40 MILLIGRAM
  410. SIMVASTATIN [Suspect]
     Active Substance: SIMVASTATIN
     Dosage: UNK
  411. SIMVASTATIN [Suspect]
     Active Substance: SIMVASTATIN
     Dosage: 40 MILLIGRAM (1 EVERY 0.25 DAYS)
  412. SIMVASTATIN [Suspect]
     Active Substance: SIMVASTATIN
     Dosage: UNK (1 EVERY 0. 25 DAYS)
  413. SIMVASTATIN [Suspect]
     Active Substance: SIMVASTATIN
     Dosage: UNK
  414. SIMVASTATIN [Suspect]
     Active Substance: SIMVASTATIN
     Dosage: 40 MILLIGRAM, QD (1 EVERY 1 DAYS)
  415. SODIUM PICOSULFATE [Suspect]
     Active Substance: SODIUM PICOSULFATE
     Indication: Constipation
     Dosage: 10 MILLIGRAM PRN
  416. SODIUM PICOSULFATE [Suspect]
     Active Substance: SODIUM PICOSULFATE
     Indication: Analgesic therapy
     Dosage: 12.5 GRAM (QM)
  417. SODIUM PICOSULFATE [Suspect]
     Active Substance: SODIUM PICOSULFATE
     Dosage: 10 MILLIGRAM
  418. SODIUM PICOSULFATE [Suspect]
     Active Substance: SODIUM PICOSULFATE
     Dosage: 10 MILLIGRAM
  419. SODIUM PICOSULFATE [Suspect]
     Active Substance: SODIUM PICOSULFATE
     Dosage: UNK
  420. SODIUM PICOSULFATE [Suspect]
     Active Substance: SODIUM PICOSULFATE
     Dosage: 12.5 GRAM
  421. SODIUM PICOSULFATE [Suspect]
     Active Substance: SODIUM PICOSULFATE
     Dosage: 10 MILLIGRAM (1 EVERY 0. 25 DAYS)
  422. THEOPHYLLINE [Suspect]
     Active Substance: THEOPHYLLINE
     Indication: Chronic obstructive pulmonary disease
     Dosage: UNK
  423. THEOPHYLLINE [Suspect]
     Active Substance: THEOPHYLLINE
     Dosage: 4 DOSAGE FORM, QD (1 EVERY 1 DAY)
  424. THEOPHYLLINE [Suspect]
     Active Substance: THEOPHYLLINE
     Dosage: 1 DOSAGE FORM, Q6H (1 EVERY 6 HOURS)
  425. UMECLIDINIUM BROMIDE [Suspect]
     Active Substance: UMECLIDINIUM BROMIDE
     Indication: Dyspnoea
     Dosage: UNK
  426. UMECLIDINIUM BROMIDE [Suspect]
     Active Substance: UMECLIDINIUM BROMIDE
     Dosage: 1 INTERNATIONAL UNIT, QD (1 EVERY 1 DAYS)
  427. WARFARIN [Suspect]
     Active Substance: WARFARIN
     Indication: Thrombosis
     Dosage: 2 MILLIGRAM, QD
  428. WARFARIN [Suspect]
     Active Substance: WARFARIN
     Dosage: 2 MILLILITER, QD
  429. WARFARIN [Suspect]
     Active Substance: WARFARIN
     Dosage: 2 GRAM, QD
  430. WARFARIN [Suspect]
     Active Substance: WARFARIN
     Dosage: 2 MILLIGRAM
  431. WARFARIN [Suspect]
     Active Substance: WARFARIN
     Dosage: 2 MILLILITER, QD
  432. WARFARIN [Suspect]
     Active Substance: WARFARIN
     Dosage: 2 MILLIGRAM (1 EVERY 0. 25 DAYS)
  433. WARFARIN [Suspect]
     Active Substance: WARFARIN
     Dosage: 2 MILLILITER (1 EVERY 0. 25 DAYS)
  434. WARFARIN [Suspect]
     Active Substance: WARFARIN
     Dosage: 2 GRAM (1 EVERY 0. 25 DAYS)
  435. POTASSIUM CHLORIDE [Suspect]
     Active Substance: POTASSIUM CHLORIDE
     Indication: Constipation
     Dosage: UNK
  436. POTASSIUM CHLORIDE [Suspect]
     Active Substance: POTASSIUM CHLORIDE
     Dosage: 17 MILLIGRAM, QD (1 EVERY 1 DAYS)
  437. POTASSIUM CHLORIDE [Suspect]
     Active Substance: POTASSIUM CHLORIDE
     Dosage: 17 GRAM, QD (1 EVERY 1 DAYS)
  438. PREVACID [Suspect]
     Active Substance: LANSOPRAZOLE
     Indication: Antacid therapy
     Dosage: 30 MILLIGRAM, QD (1 EVERY 1 DAY)
  439. PREVACID [Suspect]
     Active Substance: LANSOPRAZOLE
     Indication: Off label use
     Dosage: 30 MILLIGRAM
  440. PREVACID [Suspect]
     Active Substance: LANSOPRAZOLE
     Indication: Intentional product misuse
     Dosage: 1 DOSAGE FORM, Q6H (1 EVERY 6 HOURS)
  441. PREVACID [Suspect]
     Active Substance: LANSOPRAZOLE
     Dosage: 30 MILLIGRAM
  442. PREVACID [Suspect]
     Active Substance: LANSOPRAZOLE
     Dosage: UNK
  443. PREVACID [Suspect]
     Active Substance: LANSOPRAZOLE
     Dosage: UNK
  444. PREVACID [Suspect]
     Active Substance: LANSOPRAZOLE
     Dosage: UNK
  445. PREVACID [Suspect]
     Active Substance: LANSOPRAZOLE
     Dosage: 30 MILLIGRAM, QD (1 EVERY 1 DAYS)
  446. PREVACID [Suspect]
     Active Substance: LANSOPRAZOLE
     Indication: Antacid therapy
     Dosage: 30 MILLIGRAM, QD
  447. PREVACID [Suspect]
     Active Substance: LANSOPRAZOLE
     Dosage: UNK
  448. SODIUM BICARBONATE [Suspect]
     Active Substance: SODIUM BICARBONATE
     Indication: Nutritional supplementation
     Dosage: UNK
  449. SODIUM CHLORIDE [Suspect]
     Active Substance: SODIUM CHLORIDE
     Indication: Nutritional supplementation
     Dosage: UNK
  450. SODIUM CHLORIDE [Suspect]
     Active Substance: SODIUM CHLORIDE
     Dosage: UNK
  451. SODIUM CITRATE [Suspect]
     Active Substance: SODIUM CITRATE
     Indication: Thrombosis
     Dosage: UNK
  452. SODIUM CITRATE [Suspect]
     Active Substance: SODIUM CITRATE
     Indication: Anticoagulant therapy
     Dosage: 2 GRAM
  453. SODIUM CITRATE [Suspect]
     Active Substance: SODIUM CITRATE
     Dosage: 2.5 MILLILITER
  454. SODIUM CITRATE [Suspect]
     Active Substance: SODIUM CITRATE
     Dosage: 2.5 MILLILITER, QD (1 EVERY 1 DAYS)
  455. SODIUM CITRATE [Suspect]
     Active Substance: SODIUM CITRATE
     Dosage: 2.5 MILLIGRAM, QD (1 EVERY 1 DAYS)
  456. SODIUM CITRATE [Suspect]
     Active Substance: SODIUM CITRATE
     Dosage: 2 GRAM, QD (1 EVERY 1 DAYS)
  457. SODIUM CITRATE [Suspect]
     Active Substance: SODIUM CITRATE
     Dosage: 2.5 MILLILITER, PRN
  458. SODIUM CITRATE [Suspect]
     Active Substance: SODIUM CITRATE
     Dosage: 2 GRAM
  459. SODIUM CITRATE [Suspect]
     Active Substance: SODIUM CITRATE
     Dosage: 2.5 MILLILITER, QD (1 EVERY 1 DAYS)
  460. SODIUM CITRATE [Suspect]
     Active Substance: SODIUM CITRATE
     Dosage: 2 GRAM, QD (1 EVERY 1 DAYS)
  461. VITAMIN C [Suspect]
     Active Substance: ASCORBIC ACID
     Indication: Constipation
     Dosage: UNK
  462. VITAMIN C [Suspect]
     Active Substance: ASCORBIC ACID
     Indication: Vitamin supplementation
     Dosage: 17 GRAM, QD (1 EVERY 1 DAYS)
  463. VITAMIN C [Suspect]
     Active Substance: ASCORBIC ACID
     Indication: Intentional product misuse
     Dosage: 170 GRAM, QD (1 EVERY 1 DAY)
  464. VITAMIN K1 [Suspect]
     Active Substance: PHYTONADIONE
     Indication: Vitamin supplementation
     Dosage: 5 MILLIGRAM
  465. VITAMIN K1 [Suspect]
     Active Substance: PHYTONADIONE
     Dosage: 5 MILLIGRAM, QD (1 EVERY 1 DAYS)
  466. VITAMIN K1 [Suspect]
     Active Substance: PHYTONADIONE
     Dosage: 5 MILLIGRAM
  467. PYRIDOXINE [Suspect]
     Active Substance: PYRIDOXINE
     Indication: Analgesic therapy
     Dosage: 10 MILLIGRAM
  468. PYRIDOXINE [Suspect]
     Active Substance: PYRIDOXINE
     Indication: Constipation
     Dosage: UNK
  469. PYRIDOXINE [Suspect]
     Active Substance: PYRIDOXINE
     Indication: Vitamin supplementation
  470. SODIUM PICOSULFATE [Suspect]
     Active Substance: SODIUM PICOSULFATE
     Indication: Analgesic therapy
     Dosage: 10 MILLIGRAM (PRN)
  471. SODIUM PICOSULFATE [Suspect]
     Active Substance: SODIUM PICOSULFATE
     Indication: Constipation
     Dosage: 10 MILLIGRAM, QD
  472. SODIUM PICOSULFATE [Suspect]
     Active Substance: SODIUM PICOSULFATE
     Dosage: 10 MILLIGRAM
  473. SODIUM PICOSULFATE [Suspect]
     Active Substance: SODIUM PICOSULFATE
     Dosage: 10 MILLIGRAM
  474. SODIUM PICOSULFATE [Suspect]
     Active Substance: SODIUM PICOSULFATE
     Dosage: 10 MILLIGRAM
  475. SODIUM PICOSULFATE [Suspect]
     Active Substance: SODIUM PICOSULFATE
     Dosage: 10 MILLIGRAM
  476. POLYETHYLENE GLYCOLS [Suspect]
     Active Substance: POLYETHYLENE GLYCOLS
     Indication: Iron deficiency
     Dosage: 3 MILLIGRAM, QW
  477. POLYETHYLENE GLYCOLS [Suspect]
     Active Substance: POLYETHYLENE GLYCOLS
     Indication: Constipation
     Dosage: 2.5 MILLILITER
  478. POLYETHYLENE GLYCOLS [Suspect]
     Active Substance: POLYETHYLENE GLYCOLS
     Indication: Nutritional supplementation
     Dosage: 17 MILLIGRAM, QD
  479. POLYETHYLENE GLYCOLS [Suspect]
     Active Substance: POLYETHYLENE GLYCOLS
     Dosage: UNK, QD
  480. POLYETHYLENE GLYCOLS [Suspect]
     Active Substance: POLYETHYLENE GLYCOLS
     Indication: Constipation
     Dosage: 17 GRAM, QD
  481. POLYETHYLENE GLYCOLS [Suspect]
     Active Substance: POLYETHYLENE GLYCOLS
     Indication: Iron deficiency
     Dosage: 17 GRAM, QD
  482. POLYETHYLENE GLYCOLS [Suspect]
     Active Substance: POLYETHYLENE GLYCOLS
     Indication: Nutritional supplementation
     Dosage: UNK, QD
  483. POLYETHYLENE GLYCOLS [Suspect]
     Active Substance: POLYETHYLENE GLYCOLS
     Indication: Constipation
     Dosage: 17 MILLIGRAM, QD (17 MG, QD)
  484. POLYETHYLENE GLYCOLS [Suspect]
     Active Substance: POLYETHYLENE GLYCOLS
     Indication: Nutritional supplementation
     Dosage: 17 MILLIGRAM, QD (17 MG, QD)
  485. POLYETHYLENE GLYCOLS [Suspect]
     Active Substance: POLYETHYLENE GLYCOLS
     Dosage: 2.5 MILLILITER
  486. POLYETHYLENE GLYCOLS [Suspect]
     Active Substance: POLYETHYLENE GLYCOLS
     Dosage: 3 MILLIGRAM, QW (3 MG, 1/WEEK)
  487. POLYETHYLENE GLYCOLS [Suspect]
     Active Substance: POLYETHYLENE GLYCOLS
     Dosage: 17 MILLIGRAM, QD
  488. POLYETHYLENE GLYCOLS [Suspect]
     Active Substance: POLYETHYLENE GLYCOLS
     Dosage: 1 DOSAGE FORM, Q6H
  489. POLYETHYLENE GLYCOLS [Suspect]
     Active Substance: POLYETHYLENE GLYCOLS
     Dosage: 17 GRAM, QD (17 G, QD)
  490. POLYETHYLENE GLYCOLS [Suspect]
     Active Substance: POLYETHYLENE GLYCOLS
     Dosage: 17 MILLIGRAM, QD
  491. POLYETHYLENE GLYCOLS [Suspect]
     Active Substance: POLYETHYLENE GLYCOLS
     Dosage: UNK
  492. POLYETHYLENE GLYCOLS [Suspect]
     Active Substance: POLYETHYLENE GLYCOLS
     Dosage: 17 GRAM, QD
  493. POLYETHYLENE GLYCOLS [Suspect]
     Active Substance: POLYETHYLENE GLYCOLS
     Dosage: UNK
  494. POLYETHYLENE GLYCOLS [Suspect]
     Active Substance: POLYETHYLENE GLYCOLS
     Dosage: 17 GRAM, QD
  495. POLYETHYLENE GLYCOLS [Suspect]
     Active Substance: POLYETHYLENE GLYCOLS
     Dosage: 17 MILLIGRAM
  496. POLYETHYLENE GLYCOLS [Suspect]
     Active Substance: POLYETHYLENE GLYCOLS
     Dosage: UNK
  497. POLYETHYLENE GLYCOLS [Suspect]
     Active Substance: POLYETHYLENE GLYCOLS
     Dosage: UNK, QD
  498. MAGNESIUM OXIDE [Suspect]
     Active Substance: MAGNESIUM OXIDE
     Indication: Constipation
     Dosage: 133 MILLILITER (PRN)
  499. MAGNESIUM OXIDE [Suspect]
     Active Substance: MAGNESIUM OXIDE
     Indication: Constipation
     Dosage: 133 MILLILITER (PRN)
  500. CEFTRIAXONE [Suspect]
     Active Substance: CEFTRIAXONE
     Indication: Bacterial infection
     Dosage: 2 GRAM, QD
  501. CEFTRIAXONE [Suspect]
     Active Substance: CEFTRIAXONE
     Dosage: 2 GRAM, QD
  502. CEFTRIAXONE [Suspect]
     Active Substance: CEFTRIAXONE
     Dosage: 2 GRAM, QD
  503. MOVIPREP [Suspect]
     Active Substance: ASCORBIC ACID\POLYETHYLENE GLYCOL 3350\POTASSIUM CHLORIDE\SODIUM ASCORBATE\SODIUM CHLORIDE\SODIUM SU
     Indication: Constipation
     Dosage: 17 MILLIGRAM, QD
  504. MOVIPREP [Suspect]
     Active Substance: ASCORBIC ACID\POLYETHYLENE GLYCOL 3350\POTASSIUM CHLORIDE\SODIUM ASCORBATE\SODIUM CHLORIDE\SODIUM SU
     Dosage: UNK
  505. ALOE VERA LEAF [Suspect]
     Active Substance: ALOE VERA LEAF
     Indication: Product used for unknown indication
     Dosage: 17 MILLIGRAM, QD
  506. AMMONIUM CHLORIDE [Suspect]
     Active Substance: AMMONIUM CHLORIDE
     Indication: Product used for unknown indication
     Dosage: 2.5 MILLILITER
  507. INSULIN ASPART [Suspect]
     Active Substance: INSULIN ASPART
     Indication: Diabetes mellitus
     Dosage: UNK
  508. INSULIN ASPART [Suspect]
     Active Substance: INSULIN ASPART
     Dosage: UNK
  509. HERBALS [Suspect]
     Active Substance: HERBALS
     Indication: Product used for unknown indication
     Dosage: 12.5 MILLIGRAM
  510. SODIUM PICOSULFATE [Suspect]
     Active Substance: SODIUM PICOSULFATE
     Indication: Product used for unknown indication
     Dosage: 10 MILLIGRAM, PRN
  511. SODIUM FERRIC GLUCONATE COMPLEX [Suspect]
     Active Substance: SODIUM FERRIC GLUCONATE COMPLEX
     Indication: Product used for unknown indication
     Dosage: 125 MILLIGRAM
  512. HEPARIN SODIUM [Suspect]
     Active Substance: HEPARIN SODIUM
     Indication: Anticoagulant therapy
     Dosage: 50 MILLILITER, PRN
  513. HEPARIN SODIUM [Suspect]
     Active Substance: HEPARIN SODIUM
     Indication: Off label use
     Dosage: 250 MILLILITER
  514. HEPARIN SODIUM [Suspect]
     Active Substance: HEPARIN SODIUM
     Indication: Intentional product misuse
     Dosage: 50 MILLILITER
  515. HEPARIN SODIUM [Suspect]
     Active Substance: HEPARIN SODIUM
     Dosage: 250 ML, CYCLIC
  516. HEPARIN SODIUM [Suspect]
     Active Substance: HEPARIN SODIUM
     Dosage: 50 MILLILITER, QD
  517. HEPARIN SODIUM [Suspect]
     Active Substance: HEPARIN SODIUM
     Dosage: 50 MILLILITER, PRN
  518. HEPARIN SODIUM [Suspect]
     Active Substance: HEPARIN SODIUM
     Dosage: 50 MILLILITER, QD
  519. HEPARIN SODIUM [Suspect]
     Active Substance: HEPARIN SODIUM
     Dosage: 250 MILLILITER, AS NEEDED
  520. HEPARIN SODIUM [Suspect]
     Active Substance: HEPARIN SODIUM
     Dosage: 50 MILLILITER (50 MILLILITER )
  521. HEPARIN SODIUM [Suspect]
     Active Substance: HEPARIN SODIUM
     Dosage: 50 MILLILITER, PRN
  522. HEPARIN SODIUM [Suspect]
     Active Substance: HEPARIN SODIUM
     Dosage: 50 MILLILITER, QD
  523. HEPARIN SODIUM [Suspect]
     Active Substance: HEPARIN SODIUM
     Dosage: 50 MILLILITER, PRN
  524. HEPARIN SODIUM [Suspect]
     Active Substance: HEPARIN SODIUM
     Dosage: 50 MILLILITER, PRN
  525. HEPARIN SODIUM [Suspect]
     Active Substance: HEPARIN SODIUM
     Dosage: 50 MILLILITER, AS NECESSARY
  526. CLIOQUINOL [Suspect]
     Active Substance: CLIOQUINOL
     Indication: Product used for unknown indication
     Dosage: UNK
  527. NOREPINEPHRINE [Suspect]
     Active Substance: NOREPINEPHRINE
     Indication: Stress
     Dosage: UNK
  528. DEXTROSE [Suspect]
     Active Substance: DEXTROSE MONOHYDRATE
     Indication: Nutritional supplementation
     Dosage: 12.5 GRAM
  529. HERBALS [Suspect]
     Active Substance: HERBALS
     Indication: Product used for unknown indication
     Dosage: 12.5 MILLIGRAM
  530. AMMONIUM BROMIDE [Suspect]
     Active Substance: AMMONIUM BROMIDE
     Indication: Dyspnoea
     Dosage: UNK
  531. FENOTEROL HYDROBROMIDE [Suspect]
     Active Substance: FENOTEROL HYDROBROMIDE
     Indication: Dyspnoea
     Dosage: UNK
  532. FLUTICASONE PROPIONATE [Suspect]
     Active Substance: FLUTICASONE PROPIONATE
     Indication: Nutritional supplementation
     Dosage: UNK
  533. LANTHANUM CARBONATE [Suspect]
     Active Substance: LANTHANUM CARBONATE
     Indication: Hyperphosphataemia
     Dosage: 500 MILLIGRAM, QD (ONCE A DAY)
  534. LANTHANUM CARBONATE [Suspect]
     Active Substance: LANTHANUM CARBONATE
     Dosage: 550 MILLIGRAM, QD (ONCE A DAY)
  535. LANTHANUM CARBONATE [Suspect]
     Active Substance: LANTHANUM CARBONATE
     Dosage: 500 MILLIGRAM
  536. LANTHANUM CARBONATE [Suspect]
     Active Substance: LANTHANUM CARBONATE
     Dosage: 500 MILLIGRAM, QD (ONCE A DAY)
  537. LANTHANUM CARBONATE [Suspect]
     Active Substance: LANTHANUM CARBONATE
     Dosage: 500 MICROGRAM, QD (ONCE A DAY)
  538. LANTHANUM CARBONATE [Suspect]
     Active Substance: LANTHANUM CARBONATE
     Dosage: 500 MICROGRAM, Q8H (EVERY 8 HOURS)
  539. MAGNESIUM CARBONATE HYDROXIDE [Suspect]
     Active Substance: MAGNESIUM CARBONATE HYDROXIDE
     Indication: Constipation
     Dosage: 133 MILLILITER
  540. FOSRENOL [Suspect]
     Active Substance: LANTHANUM CARBONATE
     Indication: Blood phosphorus abnormal
     Dosage: 550 MILLIGRAM, QD
  541. FOSRENOL [Suspect]
     Active Substance: LANTHANUM CARBONATE
     Indication: Hyperphosphataemia
     Dosage: 500 MILLIGRAM
  542. FOSRENOL [Suspect]
     Active Substance: LANTHANUM CARBONATE
     Dosage: 500 MICROGRAM, QD
  543. FOSRENOL [Suspect]
     Active Substance: LANTHANUM CARBONATE
     Dosage: 500 MILLIGRAM, QD
  544. FOSRENOL [Suspect]
     Active Substance: LANTHANUM CARBONATE
     Dosage: 500 MICROGRAM, Q8H
  545. FOSRENOL [Suspect]
     Active Substance: LANTHANUM CARBONATE
     Dosage: UNK
  546. POLYETHYLENE GLYCOLS [Suspect]
     Active Substance: POLYETHYLENE GLYCOLS
     Indication: Product used for unknown indication
     Dosage: 17 MILLIGRAM, QD
  547. SODIUM SULFATE [Suspect]
     Active Substance: SODIUM SULFATE
     Indication: Product used for unknown indication
     Dosage: UNK
  548. SODIUM ASCORBATE [Suspect]
     Active Substance: SODIUM ASCORBATE
     Indication: Product used for unknown indication
     Dosage: UNK
  549. PHYTONADIONE [Suspect]
     Active Substance: PHYTONADIONE
     Indication: Vitamin supplementation
     Dosage: 5 MILLIGRAM, QD (ONCE A DAY)
  550. PHYTONADIONE [Suspect]
     Active Substance: PHYTONADIONE
     Dosage: 5 MILLIGRAM
  551. ALBUTEROL SULFATE [Suspect]
     Active Substance: ALBUTEROL SULFATE
     Indication: Chronic obstructive pulmonary disease
     Dosage: 4 DOSAGE FORM, QD
  552. ALBUTEROL SULFATE [Suspect]
     Active Substance: ALBUTEROL SULFATE
     Indication: Asthma
     Dosage: 1 DF, QID
  553. ALBUTEROL SULFATE [Suspect]
     Active Substance: ALBUTEROL SULFATE
     Dosage: UNK UNK, Q6H
  554. ALBUTEROL SULFATE [Suspect]
     Active Substance: ALBUTEROL SULFATE
     Dosage: UNK UNK, Q6H
  555. ALBUTEROL SULFATE [Suspect]
     Active Substance: ALBUTEROL SULFATE
     Dosage: 1 DF, QID
  556. ALBUTEROL SULFATE [Suspect]
     Active Substance: ALBUTEROL SULFATE
     Dosage: UNK, Q6H
  557. ALBUTEROL SULFATE [Suspect]
     Active Substance: ALBUTEROL SULFATE
     Dosage: 4 DOSAGE FORM, Q6H (4 DOSAGE FORM, QD)
  558. ALBUTEROL SULFATE [Suspect]
     Active Substance: ALBUTEROL SULFATE
     Dosage: UNK
  559. ALBUTEROL SULFATE [Suspect]
     Active Substance: ALBUTEROL SULFATE
     Dosage: UNK
  560. METAMIZOLE SODIUM [Suspect]
     Active Substance: METAMIZOLE SODIUM
     Indication: Vitamin supplementation
     Dosage: UNK
  561. METAMIZOLE SODIUM [Suspect]
     Active Substance: METAMIZOLE SODIUM
     Dosage: 5 MG, QD
  562. HYDROMORPHONE HYDROCHLORIDE [Suspect]
     Active Substance: HYDROMORPHONE HYDROCHLORIDE
     Indication: Analgesic therapy
     Dosage: 6 MG
  563. HYDROMORPHONE HYDROCHLORIDE [Suspect]
     Active Substance: HYDROMORPHONE HYDROCHLORIDE
     Dosage: 4 MG, Q4H
  564. HYDROMORPHONE HYDROCHLORIDE [Suspect]
     Active Substance: HYDROMORPHONE HYDROCHLORIDE
     Dosage: 6 MG, Q4H
  565. HYDROMORPHONE HYDROCHLORIDE [Suspect]
     Active Substance: HYDROMORPHONE HYDROCHLORIDE
     Dosage: 6 MG
  566. HYDROMORPHONE HYDROCHLORIDE [Suspect]
     Active Substance: HYDROMORPHONE HYDROCHLORIDE
     Dosage: 24 MG, Q6H
  567. HYDROMORPHONE HYDROCHLORIDE [Suspect]
     Active Substance: HYDROMORPHONE HYDROCHLORIDE
     Dosage: 17 MG, QD
  568. HYDROMORPHONE HYDROCHLORIDE [Suspect]
     Active Substance: HYDROMORPHONE HYDROCHLORIDE
     Dosage: 1 MG, Q4H
  569. HYDROMORPHONE HYDROCHLORIDE [Suspect]
     Active Substance: HYDROMORPHONE HYDROCHLORIDE
     Dosage: 24 MG, Q4H
  570. HYDROMORPHONE HYDROCHLORIDE [Suspect]
     Active Substance: HYDROMORPHONE HYDROCHLORIDE
     Dosage: 6 MG, Q6H
  571. HYDROMORPHONE HYDROCHLORIDE [Suspect]
     Active Substance: HYDROMORPHONE HYDROCHLORIDE
     Dosage: 1 MG, QD
  572. HYDROMORPHONE HYDROCHLORIDE [Suspect]
     Active Substance: HYDROMORPHONE HYDROCHLORIDE
     Dosage: 17 MILLIGRAM, QD
  573. HYDROMORPHONE HYDROCHLORIDE [Suspect]
     Active Substance: HYDROMORPHONE HYDROCHLORIDE
     Dosage: 96 MG, QD
  574. HYDROMORPHONE HYDROCHLORIDE [Suspect]
     Active Substance: HYDROMORPHONE HYDROCHLORIDE
     Dosage: 6 MILLIGRAM, QID (4 EVERY 1 DAYS)
  575. LANTHANUM CARBONATE [Suspect]
     Active Substance: LANTHANUM CARBONATE
     Indication: Hyperphosphataemia
     Dosage: UNK
  576. LANTHANUM CARBONATE [Suspect]
     Active Substance: LANTHANUM CARBONATE
     Indication: Blood phosphorus abnormal
     Dosage: 550 MILLIGRAM, QD
  577. LANTHANUM CARBONATE [Suspect]
     Active Substance: LANTHANUM CARBONATE
     Dosage: 500 MILLIGRAM
  578. LANTHANUM CARBONATE [Suspect]
     Active Substance: LANTHANUM CARBONATE
     Dosage: 500 MILLIGRAM, QD
  579. LANTHANUM CARBONATE [Suspect]
     Active Substance: LANTHANUM CARBONATE
     Dosage: 500 MILLIGRAM
  580. LANTHANUM CARBONATE [Suspect]
     Active Substance: LANTHANUM CARBONATE
     Dosage: 500 MILLIGRAM
  581. LANTHANUM CARBONATE [Suspect]
     Active Substance: LANTHANUM CARBONATE
     Dosage: 550 MILLIGRAM, QD
  582. LANTHANUM CARBONATE [Suspect]
     Active Substance: LANTHANUM CARBONATE
     Dosage: 550 MILLIGRAM, Q8H
  583. LANTHANUM CARBONATE [Suspect]
     Active Substance: LANTHANUM CARBONATE
     Dosage: 500 MILLIGRAM, QD
  584. MAALOX ANTACID [Suspect]
     Active Substance: ALUMINUM HYDROXIDE\DIMETHICONE\MAGNESIUM HYDROXIDE
     Indication: Constipation
     Dosage: 133 MILLILITER
  585. MAALOX ANTACID [Suspect]
     Active Substance: ALUMINUM HYDROXIDE\DIMETHICONE\MAGNESIUM HYDROXIDE
     Dosage: UNK
  586. DEXTROSE\SODIUM CHLORIDE [Suspect]
     Active Substance: DEXTROSE\SODIUM CHLORIDE
     Indication: Nutritional supplementation
     Dosage: UNK
  587. HYDROCORTISONE [Suspect]
     Active Substance: HYDROCORTISONE
     Indication: Angioedema
     Dosage: 100 MILLIGRAM
  588. DALTEPARIN [Suspect]
     Active Substance: DALTEPARIN
     Indication: Product used for unknown indication
     Dosage: 2.5 MILLILITER
  589. DALTEPARIN [Suspect]
     Active Substance: DALTEPARIN
     Dosage: UNK
  590. DALTEPARIN SODIUM [Suspect]
     Active Substance: DALTEPARIN SODIUM
     Indication: Pulmonary embolism
     Dosage: UNK
  591. ATROVENT [Suspect]
     Active Substance: IPRATROPIUM BROMIDE
     Indication: Dyspnoea
     Dosage: UNK, QID
  592. ATROVENT [Suspect]
     Active Substance: IPRATROPIUM BROMIDE
     Indication: Sleep disorder therapy
     Dosage: 1 DOSAGE FORM, Q8H
  593. ATROVENT [Suspect]
     Active Substance: IPRATROPIUM BROMIDE
     Dosage: UNK (OTHER)
  594. ATROVENT [Suspect]
     Active Substance: IPRATROPIUM BROMIDE
     Dosage: 4 DOSAGE FORM
  595. ATROVENT [Suspect]
     Active Substance: IPRATROPIUM BROMIDE
     Dosage: 3 DOSAGE FORM, QD
  596. ATROVENT [Suspect]
     Active Substance: IPRATROPIUM BROMIDE
     Dosage: 1 DOSAGE FORM, QD
  597. ATROVENT [Suspect]
     Active Substance: IPRATROPIUM BROMIDE
     Dosage: 1 DOSAGE FORM, Q6H
  598. ATROVENT [Suspect]
     Active Substance: IPRATROPIUM BROMIDE
     Dosage: 4 DOSAGE FORM, QD
  599. ATROVENT [Suspect]
     Active Substance: IPRATROPIUM BROMIDE
     Dosage: UNK
  600. ATROVENT [Suspect]
     Active Substance: IPRATROPIUM BROMIDE
     Dosage: UNK
  601. HEPARIN CALCIUM [Suspect]
     Active Substance: HEPARIN CALCIUM
     Indication: Anticoagulant therapy
     Dosage: 50 MILLILITER
  602. CALCIUM ASCORBATE [Suspect]
     Active Substance: CALCIUM ASCORBATE
     Indication: Vitamin supplementation
     Dosage: UNK
  603. AMIODARONE HYDROCHLORIDE [Suspect]
     Active Substance: AMIODARONE HYDROCHLORIDE
     Indication: Ventricular fibrillation
     Dosage: 150 MILLIGRAM, QD (1 EVERY 1 DAY)
  604. AMIODARONE HYDROCHLORIDE [Suspect]
     Active Substance: AMIODARONE HYDROCHLORIDE
     Indication: Drug therapy
     Dosage: UNK
  605. AMIODARONE HYDROCHLORIDE [Suspect]
     Active Substance: AMIODARONE HYDROCHLORIDE
     Dosage: UNK
  606. BETAMETHASONE [Suspect]
     Active Substance: BETAMETHASONE
     Indication: Swelling
     Dosage: UNK
  607. BETAMETHASONE [Suspect]
     Active Substance: BETAMETHASONE
     Dosage: UNK
  608. BISMUTH SUBSALICYLATE [Suspect]
     Active Substance: BISMUTH SUBSALICYLATE
     Indication: Constipation
     Dosage: 133 MILLILITER
  609. BISMUTH SUBSALICYLATE [Suspect]
     Active Substance: BISMUTH SUBSALICYLATE
     Dosage: UNK
  610. CALCIUM GLUCONATE [Suspect]
     Active Substance: CALCIUM GLUCONATE
     Indication: Product used for unknown indication
     Dosage: UNK
  611. CEFTRIAXONE SODIUM [Suspect]
     Active Substance: CEFTRIAXONE SODIUM
     Indication: Bacterial infection
     Dosage: 2 GRAM
  612. CEFTRIAXONE SODIUM [Suspect]
     Active Substance: CEFTRIAXONE SODIUM
     Dosage: UNK
  613. SODIUM PICOSULFATE [Suspect]
     Active Substance: SODIUM PICOSULFATE
     Indication: Constipation
     Dosage: 10 MILLIGRAM, QD (1 EVERY 1 DAY)
  614. SODIUM PICOSULFATE [Suspect]
     Active Substance: SODIUM PICOSULFATE
     Dosage: 10 MILLIGRAM, QD (1 EVERY 1 DAY)
  615. FLUTICASONE FUROATE [Suspect]
     Active Substance: FLUTICASONE FUROATE
     Indication: Product used for unknown indication
     Dosage: UNK
  616. VITAMIN A PALMITATE [Suspect]
     Active Substance: VITAMIN A PALMITATE
     Indication: Constipation
     Dosage: 17 GRAM, QD (1 EVERY 1 DAY)
  617. RIBOFLAVIN [Suspect]
     Active Substance: RIBOFLAVIN
     Indication: Product used for unknown indication
     Dosage: UNK
  618. SODIUM FERRIC GLUCONATE COMPLEX [Suspect]
     Active Substance: SODIUM FERRIC GLUCONATE COMPLEX
     Indication: Iron deficiency
     Dosage: 125 MILLIGRAM, MONTHLY
  619. SODIUM FERRIC GLUCONATE COMPLEX [Suspect]
     Active Substance: SODIUM FERRIC GLUCONATE COMPLEX
     Dosage: UNK
  620. SODIUM FERRIC GLUCONATE COMPLEX [Suspect]
     Active Substance: SODIUM FERRIC GLUCONATE COMPLEX
     Dosage: 4.64 MILLIGRAM
  621. WARFARIN SODIUM [Suspect]
     Active Substance: WARFARIN SODIUM
     Indication: Thrombosis
     Dosage: 2 MILLIGRAM, QD (1 EVERY 1 DAYS)
  622. WARFARIN SODIUM [Suspect]
     Active Substance: WARFARIN SODIUM
     Dosage: UNK
  623. CALTRATE [Suspect]
     Active Substance: CALCIUM CARBONATE
     Indication: Product used for unknown indication
     Dosage: UNK
  624. AMMONIUM BROMIDE [Suspect]
     Active Substance: AMMONIUM BROMIDE
     Indication: Dyspnoea
     Dosage: UNK
  625. CLIOQUINOL\HYDROCORTISONE [Suspect]
     Active Substance: CLIOQUINOL\HYDROCORTISONE
     Indication: Product used for unknown indication
     Dosage: UNK
  626. ALBUTEROL SULFATE [Suspect]
     Active Substance: ALBUTEROL SULFATE
     Indication: Asthma
     Dosage: UNK (METERED DOSE, AEROSOL)
  627. METRONIDAZOLE [Suspect]
     Active Substance: METRONIDAZOLE
     Indication: Bacterial infection
     Dosage: UNK
  628. METRONIDAZOLE [Suspect]
     Active Substance: METRONIDAZOLE
     Indication: Asthma
     Dosage: 500 MILLIGRAM, TID (3 EVERY 1 DAYS)
  629. METRONIDAZOLE [Suspect]
     Active Substance: METRONIDAZOLE
     Indication: Product used for unknown indication
  630. METRONIDAZOLE [Suspect]
     Active Substance: METRONIDAZOLE
     Indication: Off label use
  631. METRONIDAZOLE [Suspect]
     Active Substance: METRONIDAZOLE
     Indication: Intentional product misuse
  632. CALCIUM DISODIUM VERSENATE [Suspect]
     Active Substance: EDETATE CALCIUM DISODIUM
     Indication: Product used for unknown indication
     Dosage: UNK
  633. CALCIUM DISODIUM VERSENATE [Suspect]
     Active Substance: EDETATE CALCIUM DISODIUM
     Indication: Product used for unknown indication
     Dosage: UNK
  634. JUBLIA [Suspect]
     Active Substance: EFINACONAZOLE
     Indication: Product used for unknown indication
     Dosage: UNK
  635. JUBLIA [Suspect]
     Active Substance: EFINACONAZOLE
     Dosage: 10 PERCENT
  636. DOBUTAMINE HYDROCHLORIDE [Suspect]
     Active Substance: DOBUTAMINE HYDROCHLORIDE
     Indication: Cardiogenic shock
     Dosage: UNK
  637. DOBUTAMINE HYDROCHLORIDE [Suspect]
     Active Substance: DOBUTAMINE HYDROCHLORIDE
     Dosage: UNK
  638. FLUTICASONE PROPIONATE [Suspect]
     Active Substance: FLUTICASONE PROPIONATE
     Indication: Nutritional supplementation
     Dosage: UNK
  639. BISACODYL [Suspect]
     Active Substance: BISACODYL
     Indication: Constipation
     Dosage: 10 MILLIGRAM
  640. BUDESONIDE\FORMOTEROL [Suspect]
     Active Substance: BUDESONIDE\FORMOTEROL
     Indication: Product used for unknown indication
     Dosage: UNK
  641. ANHYDROUS CITRIC ACID\MAGNESIUM OXIDE\SODIUM PICOSULFATE [Suspect]
     Active Substance: ANHYDROUS CITRIC ACID\MAGNESIUM OXIDE\SODIUM PICOSULFATE
     Indication: Constipation
     Dosage: 10 MILLIGRAM
  642. FLUTICASONE FUROATE\VILANTEROL TRIFENATATE [Suspect]
     Active Substance: FLUTICASONE FUROATE\VILANTEROL TRIFENATATE
     Indication: Product used for unknown indication
     Dosage: UNK
  643. HEPARIN SODIUM [Suspect]
     Active Substance: HEPARIN SODIUM
     Indication: Anticoagulant therapy
     Dosage: 50 MILLILITER
  644. POLYETHYLENE GLYCOL 3350 [Suspect]
     Active Substance: POLYETHYLENE GLYCOL 3350
     Indication: Off label use
     Dosage: 17 MILLIGRAM
  645. POLYETHYLENE GLYCOL 3350 [Suspect]
     Active Substance: POLYETHYLENE GLYCOL 3350
     Indication: Constipation
     Dosage: 2.5 MILLILITER
  646. ONDANSETRON HYDROCHLORIDE [Suspect]
     Active Substance: ONDANSETRON HYDROCHLORIDE
     Indication: Vomiting
     Dosage: 40 MILLIGRAM, TID (3 EVERY 1 DAY)
  647. ONDANSETRON HYDROCHLORIDE [Suspect]
     Active Substance: ONDANSETRON HYDROCHLORIDE
     Indication: Nausea
  648. PICOLAX (ANHYDROUS CITRIC ACID\MAGNESIUM OXIDE\SODIUM PICOSULFATE) [Suspect]
     Active Substance: ANHYDROUS CITRIC ACID\MAGNESIUM OXIDE\SODIUM PICOSULFATE
     Indication: Product used for unknown indication
     Dosage: UNK
  649. SODIUM PHOSPHATE, MONOBASIC [Suspect]
     Active Substance: SODIUM PHOSPHATE, MONOBASIC
     Indication: Constipation
     Dosage: 133 MILLILITER
  650. VASOPRESSIN [Suspect]
     Active Substance: VASOPRESSIN
     Indication: Drug therapy
     Dosage: UNK
  651. VILANTEROL TRIFENATATE [Suspect]
     Active Substance: VILANTEROL TRIFENATATE
     Indication: Product used for unknown indication
     Dosage: UNK
  652. DISODIUM HYDROGEN CITRATE [Concomitant]
     Active Substance: DISODIUM HYDROGEN CITRATE
     Dosage: UNK
  653. BETA CAROTENE [Concomitant]
     Active Substance: BETA CAROTENE
     Dosage: UNK
  654. POTASSIUM CHLORIDE [Concomitant]
     Active Substance: POTASSIUM CHLORIDE
     Dosage: UNK
  655. POTASSIUM BROMIDE [Suspect]
     Active Substance: POTASSIUM BROMIDE
  656. SODIUM BROMIDE [Suspect]
     Active Substance: SODIUM BROMIDE

REACTIONS (110)
  - Abdominal distension [Fatal]
  - Activated partial thromboplastin time prolonged [Fatal]
  - Anaemia [Fatal]
  - Aortic stenosis [Fatal]
  - Chronic obstructive pulmonary disease [Fatal]
  - End stage renal disease [Fatal]
  - Gout [Fatal]
  - Hyperlipidaemia [Fatal]
  - Hypertension [Fatal]
  - Incorrect route of product administration [Fatal]
  - Sleep disorder therapy [Fatal]
  - Ulcer [Fatal]
  - Ventricular fibrillation [Fatal]
  - Multiple organ dysfunction syndrome [Fatal]
  - Appendicitis [Fatal]
  - Stress [Fatal]
  - Nausea [Fatal]
  - General physical health deterioration [Fatal]
  - Ascites [Fatal]
  - Constipation [Fatal]
  - Hyponatraemia [Fatal]
  - Vomiting [Fatal]
  - Appendicolith [Fatal]
  - Sepsis [Fatal]
  - Abdominal pain [Fatal]
  - Blood phosphorus increased [Fatal]
  - Condition aggravated [Fatal]
  - Somnolence [Fatal]
  - Dry mouth [Fatal]
  - Death [Fatal]
  - Cardiogenic shock [Fatal]
  - Myasthenia gravis [Fatal]
  - Blood uric acid increased [Fatal]
  - Blood cholesterol increased [Fatal]
  - Bacterial infection [Fatal]
  - Analgesic therapy [Fatal]
  - Diabetes mellitus [Fatal]
  - Neuralgia [Fatal]
  - Swelling [Fatal]
  - Thrombosis [Fatal]
  - Dyspnoea [Fatal]
  - Drug therapy [Fatal]
  - Pulmonary embolism [Fatal]
  - Sleep disorder [Fatal]
  - Hypophosphataemia [Fatal]
  - Hyperphosphataemia [Fatal]
  - Iron deficiency [Fatal]
  - Drug hypersensitivity [Fatal]
  - Abdominal pain upper [Fatal]
  - Aspiration [Fatal]
  - Asthenia [Fatal]
  - Asthma [Fatal]
  - Blood calcium increased [Fatal]
  - Blood creatinine increased [Fatal]
  - Blood test abnormal [Fatal]
  - Bronchiectasis [Fatal]
  - Bronchopulmonary aspergillosis allergic [Fatal]
  - Cough [Fatal]
  - Fatigue [Fatal]
  - Gastrooesophageal reflux disease [Fatal]
  - Headache [Fatal]
  - Haemoptysis [Fatal]
  - Hypoxia [Fatal]
  - Lower respiratory tract infection [Fatal]
  - Liver function test increased [Fatal]
  - Lung opacity [Fatal]
  - Musculoskeletal stiffness [Fatal]
  - Obstructive airways disorder [Fatal]
  - Oedema peripheral [Fatal]
  - Pain [Fatal]
  - Pleural effusion [Fatal]
  - Pneumonia [Fatal]
  - Rales [Fatal]
  - Pulmonary fibrosis [Fatal]
  - Pulmonary mass [Fatal]
  - Pyrexia [Fatal]
  - Sputum discoloured [Fatal]
  - Upper respiratory tract infection [Fatal]
  - Total lung capacity decreased [Fatal]
  - Transaminases increased [Fatal]
  - Wheezing [Fatal]
  - Tremor [Fatal]
  - Drug intolerance [Fatal]
  - Congenital hiatus hernia [Fatal]
  - Troponin increased [Fatal]
  - Antacid therapy [Fatal]
  - Analgesic therapy [Fatal]
  - Anticoagulant therapy [Fatal]
  - Benign prostatic hyperplasia [Fatal]
  - Breath sounds abnormal [Fatal]
  - Cardiovascular disorder [Fatal]
  - Coronary artery disease [Fatal]
  - Full blood count abnormal [Fatal]
  - Gastrointestinal disorder [Fatal]
  - Hypercholesterolaemia [Fatal]
  - Joint injury [Fatal]
  - Liver disorder [Fatal]
  - Lung disorder [Fatal]
  - Malignant melanoma stage 0 [Fatal]
  - Micturition urgency [Fatal]
  - Pleuritic pain [Fatal]
  - Respiratory symptom [Fatal]
  - Transient ischaemic attack [Fatal]
  - Aspartate aminotransferase increased [Fatal]
  - Drug ineffective [Fatal]
  - Product dose omission issue [Fatal]
  - Product use in unapproved indication [Fatal]
  - Intentional product misuse [Fatal]
  - Inappropriate schedule of product administration [Fatal]
  - Off label use [Fatal]

NARRATIVE: CASE EVENT DATE: 20200601
